FAERS Safety Report 23809011 (Version 2)
Quarter: 2025Q3

REPORT INFORMATION
  Report Type: Spontaneous
  Country: EU (occurrence: EU)
  Receive Date: 20240502
  Receipt Date: 20250722
  Transmission Date: 20251021
  Serious: Yes (Life-Threatening, Hospitalization, Other)
  Sender: SANDOZ
  Company Number: EU-SANDOZ-SDZ2024DE044288

PATIENT
  Age: 77 Year
  Sex: Female

DRUGS (739)
  1. AMITRIPTYLINE [Suspect]
     Active Substance: AMITRIPTYLINE
     Indication: Cerebrovascular accident
     Dosage: 50 MG, DAILY
     Route: 065
  2. AMITRIPTYLINE [Suspect]
     Active Substance: AMITRIPTYLINE
     Indication: Angina pectoris
  3. AMITRIPTYLINE [Suspect]
     Active Substance: AMITRIPTYLINE
     Indication: Arthritis
  4. AMITRIPTYLINE [Suspect]
     Active Substance: AMITRIPTYLINE
     Indication: Chest pain
  5. AMITRIPTYLINE [Suspect]
     Active Substance: AMITRIPTYLINE
     Indication: Constipation
  6. AMITRIPTYLINE [Suspect]
     Active Substance: AMITRIPTYLINE
     Indication: Coronary artery disease
  7. AMITRIPTYLINE [Suspect]
     Active Substance: AMITRIPTYLINE
     Indication: Dementia
  8. AMITRIPTYLINE [Suspect]
     Active Substance: AMITRIPTYLINE
     Indication: Duodenal ulcer
  9. AMITRIPTYLINE [Suspect]
     Active Substance: AMITRIPTYLINE
     Indication: Fibromyalgia
  10. AMITRIPTYLINE [Suspect]
     Active Substance: AMITRIPTYLINE
     Indication: Hypertension
  11. AMITRIPTYLINE [Suspect]
     Active Substance: AMITRIPTYLINE
     Indication: Insomnia
  12. AMITRIPTYLINE [Suspect]
     Active Substance: AMITRIPTYLINE
     Indication: Oedema
  13. AMITRIPTYLINE [Suspect]
     Active Substance: AMITRIPTYLINE
     Indication: Pain
  14. AMITRIPTYLINE [Suspect]
     Active Substance: AMITRIPTYLINE
     Indication: Product used for unknown indication
  15. AMITRIPTYLINE [Suspect]
     Active Substance: AMITRIPTYLINE
     Indication: Prophylaxis
  16. AMITRIPTYLINE [Suspect]
     Active Substance: AMITRIPTYLINE
     Indication: Radioactive iodine therapy
  17. AMITRIPTYLINE [Suspect]
     Active Substance: AMITRIPTYLINE
     Indication: Thyroid disorder
  18. AMITRIPTYLINE HYDROCHLORIDE [Suspect]
     Active Substance: AMITRIPTYLINE HYDROCHLORIDE
     Indication: Pain
     Dosage: 5 MILLIGRAM, DAILY
     Route: 065
  19. AMITRIPTYLINE HYDROCHLORIDE [Suspect]
     Active Substance: AMITRIPTYLINE HYDROCHLORIDE
     Indication: Coronary artery disease
     Dosage: 50 MILLIGRAM, DAILY
     Route: 065
  20. AMITRIPTYLINE HYDROCHLORIDE [Suspect]
     Active Substance: AMITRIPTYLINE HYDROCHLORIDE
     Indication: Angina pectoris
     Dosage: 6 MILLIGRAM, DAILY
     Route: 061
  21. AMITRIPTYLINE HYDROCHLORIDE [Suspect]
     Active Substance: AMITRIPTYLINE HYDROCHLORIDE
     Indication: Dementia
     Dosage: 60 MILLIGRAM, DAILY
     Route: 065
  22. AMITRIPTYLINE HYDROCHLORIDE [Suspect]
     Active Substance: AMITRIPTYLINE HYDROCHLORIDE
     Indication: Duodenal ulcer
     Dosage: 650 MG, DAILY
     Route: 065
  23. AMITRIPTYLINE HYDROCHLORIDE [Suspect]
     Active Substance: AMITRIPTYLINE HYDROCHLORIDE
     Indication: Oedema
     Route: 065
  24. AMITRIPTYLINE HYDROCHLORIDE [Suspect]
     Active Substance: AMITRIPTYLINE HYDROCHLORIDE
     Indication: Fibromyalgia
     Dosage: 50 GALLONS, DAILY
     Route: 065
  25. AMITRIPTYLINE HYDROCHLORIDE [Suspect]
     Active Substance: AMITRIPTYLINE HYDROCHLORIDE
     Indication: Prophylaxis
     Route: 065
  26. AMITRIPTYLINE HYDROCHLORIDE [Suspect]
     Active Substance: AMITRIPTYLINE HYDROCHLORIDE
     Indication: Arthritis
  27. AMITRIPTYLINE HYDROCHLORIDE [Suspect]
     Active Substance: AMITRIPTYLINE HYDROCHLORIDE
     Indication: Constipation
  28. AMITRIPTYLINE HYDROCHLORIDE [Suspect]
     Active Substance: AMITRIPTYLINE HYDROCHLORIDE
     Indication: Hypertension
  29. AMITRIPTYLINE HYDROCHLORIDE [Suspect]
     Active Substance: AMITRIPTYLINE HYDROCHLORIDE
     Indication: Insomnia
  30. AMITRIPTYLINE HYDROCHLORIDE [Suspect]
     Active Substance: AMITRIPTYLINE HYDROCHLORIDE
     Indication: Product used for unknown indication
  31. AMITRIPTYLINE HYDROCHLORIDE [Suspect]
     Active Substance: AMITRIPTYLINE HYDROCHLORIDE
     Indication: Radioactive iodine therapy
  32. AMITRIPTYLINE HYDROCHLORIDE [Suspect]
     Active Substance: AMITRIPTYLINE HYDROCHLORIDE
     Indication: Small intestine carcinoma
  33. AMITRIPTYLINE HYDROCHLORIDE [Suspect]
     Active Substance: AMITRIPTYLINE HYDROCHLORIDE
     Indication: Thyroid disorder
  34. AMLODIPINE [Suspect]
     Active Substance: AMLODIPINE BESYLATE
     Route: 065
  35. AMLODIPINE [Suspect]
     Active Substance: AMLODIPINE BESYLATE
     Route: 065
  36. AMLODIPINE [Suspect]
     Active Substance: AMLODIPINE BESYLATE
     Dosage: 0.5 MG, BID
     Route: 065
  37. AMLODIPINE [Suspect]
     Active Substance: AMLODIPINE BESYLATE
     Dosage: 1 DF, DAILY
     Route: 065
  38. AMLODIPINE [Suspect]
     Active Substance: AMLODIPINE BESYLATE
     Dosage: 1 DF, Q12H
     Route: 065
  39. AMLODIPINE [Suspect]
     Active Substance: AMLODIPINE BESYLATE
     Dosage: 1 DOSAGE FORM, EVERY 2 DAYS
     Route: 065
  40. AMLODIPINE [Suspect]
     Active Substance: AMLODIPINE BESYLATE
     Route: 065
  41. AMLODIPINE [Suspect]
     Active Substance: AMLODIPINE BESYLATE
     Dosage: 16 MG, DAILY
     Route: 065
  42. AMLODIPINE [Suspect]
     Active Substance: AMLODIPINE BESYLATE
     Route: 065
  43. AMLODIPINE [Suspect]
     Active Substance: AMLODIPINE BESYLATE
     Indication: Product used for unknown indication
     Dosage: 18 MILLIGRAM, DAILY
     Route: 065
  44. AMLODIPINE [Suspect]
     Active Substance: AMLODIPINE BESYLATE
     Dosage: 1 DF, BID
     Route: 065
  45. AMLODIPINE [Suspect]
     Active Substance: AMLODIPINE BESYLATE
     Dosage: 2 DF, DAILY
     Route: 065
  46. AMLODIPINE [Suspect]
     Active Substance: AMLODIPINE BESYLATE
     Dosage: 2 DF, DAILY
     Route: 065
  47. AMLODIPINE [Suspect]
     Active Substance: AMLODIPINE BESYLATE
     Dosage: 2 DF, Q12H
     Route: 048
  48. AMLODIPINE [Suspect]
     Active Substance: AMLODIPINE BESYLATE
     Dosage: 2 DF, QOD
     Route: 065
  49. AMLODIPINE [Suspect]
     Active Substance: AMLODIPINE BESYLATE
     Route: 065
  50. AMLODIPINE [Suspect]
     Active Substance: AMLODIPINE BESYLATE
     Dosage: 360 MILLIGRAM, DAILY
     Route: 065
  51. AMLODIPINE [Suspect]
     Active Substance: AMLODIPINE BESYLATE
     Dosage: 200 MG, BID
     Route: 065
  52. AMLODIPINE [Suspect]
     Active Substance: AMLODIPINE BESYLATE
     Dosage: 5 MILLIGRAM, Q12H
     Route: 065
  53. AMLODIPINE [Suspect]
     Active Substance: AMLODIPINE BESYLATE
     Dosage: UNK, DAILY
     Route: 065
  54. AMLODIPINE [Suspect]
     Active Substance: AMLODIPINE BESYLATE
     Route: 048
  55. AMLODIPINE [Suspect]
     Active Substance: AMLODIPINE BESYLATE
     Route: 065
  56. AMLODIPINE [Suspect]
     Active Substance: AMLODIPINE BESYLATE
     Route: 065
  57. AMLODIPINE BESYLATE [Suspect]
     Active Substance: AMLODIPINE BESYLATE
     Indication: Chronic obstructive pulmonary disease
     Dosage: 5 MG, DAILY
     Route: 065
  58. AMLODIPINE BESYLATE [Suspect]
     Active Substance: AMLODIPINE BESYLATE
     Dosage: 5 MG, DAILY
     Route: 065
  59. AMLODIPINE BESYLATE [Suspect]
     Active Substance: AMLODIPINE BESYLATE
     Dosage: 5 MG, DAILY
     Route: 065
  60. AMLODIPINE BESYLATE [Suspect]
     Active Substance: AMLODIPINE BESYLATE
     Indication: Hypertension
     Route: 065
  61. AMLODIPINE BESYLATE [Suspect]
     Active Substance: AMLODIPINE BESYLATE
     Indication: Chest pain
     Dosage: 50 MILLIGRAM, DAILY
     Route: 065
  62. AMLODIPINE BESYLATE [Suspect]
     Active Substance: AMLODIPINE BESYLATE
     Indication: Angina pectoris
     Route: 065
  63. AMLODIPINE BESYLATE [Suspect]
     Active Substance: AMLODIPINE BESYLATE
     Indication: Constipation
     Route: 065
  64. AMLODIPINE BESYLATE [Suspect]
     Active Substance: AMLODIPINE BESYLATE
     Indication: Coronary artery disease
     Route: 065
  65. AMLODIPINE BESYLATE [Suspect]
     Active Substance: AMLODIPINE BESYLATE
     Route: 065
  66. AMLODIPINE [Suspect]
     Active Substance: AMLODIPINE BESYLATE
     Indication: Coronary artery disease
     Dosage: 5 MG, DAILY
     Route: 065
  67. AMLODIPINE [Suspect]
     Active Substance: AMLODIPINE BESYLATE
     Indication: Product used for unknown indication
     Dosage: 5 MG, DAILY
     Route: 065
  68. AMLODIPINE [Suspect]
     Active Substance: AMLODIPINE BESYLATE
     Dosage: 5 MG, DAILY
     Route: 065
  69. AMLODIPINE [Suspect]
     Active Substance: AMLODIPINE BESYLATE
     Dosage: 5 MG, DAILY
     Route: 065
  70. AMLODIPINE [Suspect]
     Active Substance: AMLODIPINE BESYLATE
     Dosage: 5 MG, DAILY
     Route: 065
  71. AMLODIPINE [Suspect]
     Active Substance: AMLODIPINE BESYLATE
     Dosage: 5 MG, DAILY
     Route: 065
  72. AMLODIPINE [Suspect]
     Active Substance: AMLODIPINE BESYLATE
     Dosage: 5 MG, DAILY
     Route: 065
  73. AMLODIPINE [Suspect]
     Active Substance: AMLODIPINE BESYLATE
     Dosage: 5 MG, DAILY
     Route: 065
  74. AMLODIPINE [Suspect]
     Active Substance: AMLODIPINE BESYLATE
     Dosage: 5 MG, DAILY
     Route: 065
  75. AMLODIPINE [Suspect]
     Active Substance: AMLODIPINE BESYLATE
     Dosage: 5 MG, DAILY
     Route: 065
  76. AMLODIPINE [Suspect]
     Active Substance: AMLODIPINE BESYLATE
     Dosage: 5 MG, DAILY
     Route: 065
  77. AMLODIPINE [Suspect]
     Active Substance: AMLODIPINE BESYLATE
     Dosage: 5 MG, DAILY
     Route: 065
  78. AMLODIPINE [Suspect]
     Active Substance: AMLODIPINE BESYLATE
     Dosage: 5 MG, DAILY
     Route: 065
  79. AMLODIPINE [Suspect]
     Active Substance: AMLODIPINE BESYLATE
     Dosage: 5 MG, DAILY
     Route: 065
  80. AMLODIPINE [Suspect]
     Active Substance: AMLODIPINE BESYLATE
     Dosage: 5 MG, DAILY
     Route: 065
  81. AMLODIPINE [Suspect]
     Active Substance: AMLODIPINE BESYLATE
     Dosage: 5 MG, DAILY
     Route: 065
  82. AMLODIPINE [Suspect]
     Active Substance: AMLODIPINE BESYLATE
     Dosage: 5 MG, DAILY
     Route: 065
  83. AMLODIPINE [Suspect]
     Active Substance: AMLODIPINE BESYLATE
     Dosage: 5 MG, DAILY
     Route: 065
  84. AMLODIPINE [Suspect]
     Active Substance: AMLODIPINE BESYLATE
     Dosage: 5 MG, DAILY
     Route: 065
  85. AMLODIPINE [Suspect]
     Active Substance: AMLODIPINE BESYLATE
     Dosage: 5 MG, DAILY
     Route: 065
  86. AMLODIPINE [Suspect]
     Active Substance: AMLODIPINE BESYLATE
     Dosage: 5 MG, DAILY
     Route: 065
  87. AMLODIPINE [Suspect]
     Active Substance: AMLODIPINE BESYLATE
     Dosage: 5 MG, DAILY
     Route: 065
  88. AMLODIPINE [Suspect]
     Active Substance: AMLODIPINE BESYLATE
     Dosage: 5 MG, DAILY
     Route: 065
  89. AMLODIPINE [Suspect]
     Active Substance: AMLODIPINE BESYLATE
     Dosage: 5 MG, DAILY
     Route: 065
  90. AMLODIPINE [Suspect]
     Active Substance: AMLODIPINE BESYLATE
     Dosage: 5 MG, DAILY
     Route: 065
  91. AMLODIPINE [Suspect]
     Active Substance: AMLODIPINE BESYLATE
     Dosage: 5 MG, DAILY
     Route: 065
  92. AMLODIPINE [Suspect]
     Active Substance: AMLODIPINE BESYLATE
     Dosage: 5 MG, DAILY
     Route: 065
  93. AMLODIPINE [Suspect]
     Active Substance: AMLODIPINE BESYLATE
     Indication: Angina pectoris
     Route: 065
  94. AMLODIPINE [Suspect]
     Active Substance: AMLODIPINE BESYLATE
     Indication: Chest pain
     Route: 065
  95. AMLODIPINE [Suspect]
     Active Substance: AMLODIPINE BESYLATE
     Indication: Hypertension
     Route: 065
  96. AMLODIPINE [Suspect]
     Active Substance: AMLODIPINE BESYLATE
     Route: 065
  97. AMLODIPINE [Suspect]
     Active Substance: AMLODIPINE BESYLATE
     Route: 065
  98. AMLODIPINE [Suspect]
     Active Substance: AMLODIPINE BESYLATE
     Route: 065
  99. AMLODIPINE [Suspect]
     Active Substance: AMLODIPINE BESYLATE
     Route: 065
  100. ACEBUTOLOL HYDROCHLORIDE [Suspect]
     Active Substance: ACEBUTOLOL HYDROCHLORIDE
     Dosage: 100 MG, UNK (EVERY 4.8 HOURS)
     Route: 065
  101. ACEBUTOLOL HYDROCHLORIDE [Suspect]
     Active Substance: ACEBUTOLOL HYDROCHLORIDE
     Dosage: 100 MG, DAILY
     Route: 065
  102. ACEBUTOLOL HYDROCHLORIDE [Suspect]
     Active Substance: ACEBUTOLOL HYDROCHLORIDE
     Dosage: 100 MG, DAILY
     Route: 065
  103. ACEBUTOLOL HYDROCHLORIDE [Suspect]
     Active Substance: ACEBUTOLOL HYDROCHLORIDE
     Dosage: 100 MG, BID
     Route: 065
  104. ACEBUTOLOL HYDROCHLORIDE [Suspect]
     Active Substance: ACEBUTOLOL HYDROCHLORIDE
     Dosage: 200 MG, 5/DAY
     Route: 065
  105. ACEBUTOLOL HYDROCHLORIDE [Suspect]
     Active Substance: ACEBUTOLOL HYDROCHLORIDE
     Indication: Hypertension
     Dosage: 200 MG, 5X/WEEK
     Route: 065
  106. ACEBUTOLOL HYDROCHLORIDE [Suspect]
     Active Substance: ACEBUTOLOL HYDROCHLORIDE
     Dosage: 200 MG, 5/DAY
     Route: 065
  107. ACEBUTOLOL HYDROCHLORIDE [Suspect]
     Active Substance: ACEBUTOLOL HYDROCHLORIDE
     Indication: Chronic obstructive pulmonary disease
     Dosage: 200 MG, 5X/WEEK
     Route: 065
  108. ACEBUTOLOL HYDROCHLORIDE [Suspect]
     Active Substance: ACEBUTOLOL HYDROCHLORIDE
     Dosage: 200 MG, QD
     Route: 065
  109. ACEBUTOLOL HYDROCHLORIDE [Suspect]
     Active Substance: ACEBUTOLOL HYDROCHLORIDE
     Route: 065
  110. ACEBUTOLOL HYDROCHLORIDE [Suspect]
     Active Substance: ACEBUTOLOL HYDROCHLORIDE
     Route: 065
  111. ACEBUTOLOL HYDROCHLORIDE [Suspect]
     Active Substance: ACEBUTOLOL HYDROCHLORIDE
     Route: 065
  112. ACEBUTOLOL HYDROCHLORIDE [Suspect]
     Active Substance: ACEBUTOLOL HYDROCHLORIDE
     Dosage: 200 MG, QD
     Route: 065
  113. ACEBUTOLOL HYDROCHLORIDE [Suspect]
     Active Substance: ACEBUTOLOL HYDROCHLORIDE
     Indication: Chest pain
     Dosage: 400 MG, QD
     Route: 065
  114. ACEBUTOLOL HYDROCHLORIDE [Suspect]
     Active Substance: ACEBUTOLOL HYDROCHLORIDE
     Indication: Constipation
     Dosage: 400 MG, QD
     Route: 065
  115. ACEBUTOLOL HYDROCHLORIDE [Suspect]
     Active Substance: ACEBUTOLOL HYDROCHLORIDE
     Indication: Coronary artery disease
     Dosage: 400 MG, QD
     Route: 065
  116. ACEBUTOLOL HYDROCHLORIDE [Suspect]
     Active Substance: ACEBUTOLOL HYDROCHLORIDE
     Dosage: 200 MG, BID
     Route: 065
  117. ACEBUTOLOL HYDROCHLORIDE [Suspect]
     Active Substance: ACEBUTOLOL HYDROCHLORIDE
     Route: 065
  118. ACEBUTOLOL HYDROCHLORIDE [Suspect]
     Active Substance: ACEBUTOLOL HYDROCHLORIDE
     Route: 065
  119. ACEBUTOLOL HYDROCHLORIDE [Suspect]
     Active Substance: ACEBUTOLOL HYDROCHLORIDE
     Indication: Angina pectoris
     Dosage: 100 MG, 5/DAY
     Route: 065
  120. ACEBUTOLOL HYDROCHLORIDE [Suspect]
     Active Substance: ACEBUTOLOL HYDROCHLORIDE
     Route: 065
  121. ACEBUTOLOL HYDROCHLORIDE [Suspect]
     Active Substance: ACEBUTOLOL HYDROCHLORIDE
     Route: 065
  122. ACEBUTOLOL HYDROCHLORIDE [Suspect]
     Active Substance: ACEBUTOLOL HYDROCHLORIDE
     Dosage: 200 MG, 5X/WEEK
     Route: 065
  123. ACETAMINOPHEN [Suspect]
     Active Substance: ACETAMINOPHEN
     Indication: Hypertension
     Dosage: 50 MG, QD
     Route: 065
  124. ACETAMINOPHEN [Suspect]
     Active Substance: ACETAMINOPHEN
     Indication: Chest pain
     Route: 065
  125. ACETAMINOPHEN [Suspect]
     Active Substance: ACETAMINOPHEN
     Indication: Chronic obstructive pulmonary disease
     Route: 065
  126. ACETAMINOPHEN [Suspect]
     Active Substance: ACETAMINOPHEN
     Indication: Coronary artery disease
     Dosage: 650 MG, QD
     Route: 065
  127. ACETAMINOPHEN [Suspect]
     Active Substance: ACETAMINOPHEN
     Indication: Angina pectoris
     Dosage: 650 MG, Q6H
     Route: 065
  128. ACETAMINOPHEN [Suspect]
     Active Substance: ACETAMINOPHEN
     Indication: Fibromyalgia
     Route: 065
  129. ACETAMINOPHEN [Suspect]
     Active Substance: ACETAMINOPHEN
     Indication: Pain
     Route: 065
  130. ACETAMINOPHEN [Suspect]
     Active Substance: ACETAMINOPHEN
     Indication: Radioactive iodine therapy
     Route: 065
  131. ACETAMINOPHEN [Suspect]
     Active Substance: ACETAMINOPHEN
     Indication: Cerebrovascular accident
  132. ACETAMINOPHEN [Suspect]
     Active Substance: ACETAMINOPHEN
     Indication: Product used for unknown indication
  133. ACETAMINOPHEN AND CAFFEINE [Suspect]
     Active Substance: ACETAMINOPHEN\CAFFEINE
     Indication: Product used for unknown indication
     Dosage: 2 DOSAGE FORM, 1 EVERY 24 DAYS
     Route: 065
  134. ACETAMINOPHEN AND CODEINE [Suspect]
     Active Substance: ACETAMINOPHEN\CODEINE PHOSPHATE
     Indication: Product used for unknown indication
     Route: 065
  135. ACETAMINOPHEN\CAFFEINE [Suspect]
     Active Substance: ACETAMINOPHEN\CAFFEINE
     Indication: Chronic obstructive pulmonary disease
     Dosage: 1 DF, QD
     Route: 065
  136. ACETAMINOPHEN\CAFFEINE [Suspect]
     Active Substance: ACETAMINOPHEN\CAFFEINE
     Indication: Angina pectoris
     Dosage: 18 MG, QD
     Route: 065
  137. ACETAMINOPHEN\CAFFEINE [Suspect]
     Active Substance: ACETAMINOPHEN\CAFFEINE
     Indication: Product used for unknown indication
     Route: 065
  138. ACETAMINOPHEN\CAFFEINE [Suspect]
     Active Substance: ACETAMINOPHEN\CAFFEINE
     Indication: Chest pain
     Dosage: 18 UG, QD
     Route: 065
  139. ACETAMINOPHEN\CAFFEINE [Suspect]
     Active Substance: ACETAMINOPHEN\CAFFEINE
     Indication: Coronary artery disease
     Dosage: 18 UG, QD
     Route: 065
  140. ACETAMINOPHEN\CAFFEINE [Suspect]
     Active Substance: ACETAMINOPHEN\CAFFEINE
     Dosage: 18 UG, QD
     Route: 065
  141. ACETAMINOPHEN\CAFFEINE [Suspect]
     Active Substance: ACETAMINOPHEN\CAFFEINE
     Indication: Hypertension
     Route: 065
  142. ACETAMINOPHEN\CAFFEINE [Suspect]
     Active Substance: ACETAMINOPHEN\CAFFEINE
     Indication: Radioactive iodine therapy
     Route: 065
  143. ACETAMINOPHEN\CAFFEINE [Suspect]
     Active Substance: ACETAMINOPHEN\CAFFEINE
     Indication: Pain
     Dosage: UNK, QD
     Route: 065
  144. ACETAMINOPHEN\CAFFEINE [Suspect]
     Active Substance: ACETAMINOPHEN\CAFFEINE
     Indication: Cerebrovascular accident
     Route: 048
  145. ACETAMINOSALOL\ASPIRIN\CAFFEINE [Suspect]
     Active Substance: ACETAMINOSALOL\ASPIRIN\CAFFEINE
     Dosage: 10 MG, DAILY
     Route: 065
  146. ACETAMINOSALOL\ASPIRIN\CAFFEINE [Suspect]
     Active Substance: ACETAMINOSALOL\ASPIRIN\CAFFEINE
     Dosage: 100 MG, DAILY
     Route: 065
  147. ACETAMINOSALOL\ASPIRIN\CAFFEINE [Suspect]
     Active Substance: ACETAMINOSALOL\ASPIRIN\CAFFEINE
     Indication: Product used for unknown indication
     Route: 065
  148. ASPIRIN [Suspect]
     Active Substance: ASPIRIN
     Dosage: 15 MG, DAILY
     Route: 048
  149. ASPIRIN [Suspect]
     Active Substance: ASPIRIN
     Indication: Angina pectoris
     Dosage: 15 MG, DAILY
     Route: 065
  150. ASPIRIN [Suspect]
     Active Substance: ASPIRIN
     Dosage: 15 MG, DAILY
     Route: 065
  151. ASPIRIN [Suspect]
     Active Substance: ASPIRIN
     Route: 048
  152. ASPIRIN [Suspect]
     Active Substance: ASPIRIN
     Route: 065
  153. ASPIRIN [Suspect]
     Active Substance: ASPIRIN
     Dosage: 20 MG, DAILY
     Route: 048
  154. ASPIRIN [Suspect]
     Active Substance: ASPIRIN
     Indication: Hypertension
     Dosage: 40 UNK,1 EVERY 1 DAY
     Route: 065
  155. ASPIRIN [Suspect]
     Active Substance: ASPIRIN
     Indication: Cerebrovascular accident
     Dosage: 40 MG, DAILY
     Route: 048
  156. ASPIRIN [Suspect]
     Active Substance: ASPIRIN
     Indication: Coronary artery disease
     Route: 048
  157. ASPIRIN [Suspect]
     Active Substance: ASPIRIN
     Route: 065
  158. ASPIRIN [Suspect]
     Active Substance: ASPIRIN
     Route: 065
  159. ACETAMINOPHEN\ASPIRIN\CAFFEINE [Suspect]
     Active Substance: ACETAMINOPHEN\ASPIRIN\CAFFEINE
     Dosage: 1500 MG, TID
     Route: 065
  160. ACETAMINOPHEN\ASPIRIN\CAFFEINE [Suspect]
     Active Substance: ACETAMINOPHEN\ASPIRIN\CAFFEINE
     Dosage: 500 MILLIGRAM, DAILY
     Route: 065
  161. ACETAMINOPHEN\ASPIRIN\CAFFEINE [Suspect]
     Active Substance: ACETAMINOPHEN\ASPIRIN\CAFFEINE
     Dosage: 500 MG, Q8H
     Route: 065
  162. ACETAMINOPHEN\ASPIRIN\CAFFEINE [Suspect]
     Active Substance: ACETAMINOPHEN\ASPIRIN\CAFFEINE
     Dosage: 500 MG, Q8H
     Route: 065
  163. ACETAMINOPHEN\ASPIRIN\CAFFEINE [Suspect]
     Active Substance: ACETAMINOPHEN\ASPIRIN\CAFFEINE
     Indication: Product used for unknown indication
     Route: 065
  164. ASPIRIN\DIPYRIDAMOLE [Suspect]
     Active Substance: ASPIRIN\DIPYRIDAMOLE
     Indication: Product used for unknown indication
     Dosage: 2 DOSAGE FORM, DAILY
     Route: 065
  165. HERBALS [Suspect]
     Active Substance: HERBALS
     Route: 048
  166. HERBALS [Suspect]
     Active Substance: HERBALS
     Dosage: 10 MG, 1 EVERY 1DAY
     Route: 048
  167. HERBALS [Suspect]
     Active Substance: HERBALS
     Route: 065
  168. HERBALS [Suspect]
     Active Substance: HERBALS
     Dosage: 20 MG, DAILY
     Route: 048
  169. HERBALS [Suspect]
     Active Substance: HERBALS
     Dosage: 20 MG, Q12H
     Route: 048
  170. HERBALS [Suspect]
     Active Substance: HERBALS
     Dosage: 20 MG, Q12H
     Route: 048
  171. HERBALS [Suspect]
     Active Substance: HERBALS
     Dosage: 20 MG, Q12H
     Route: 065
  172. HERBALS [Suspect]
     Active Substance: HERBALS
     Dosage: 20 MILLIGRAM, 1 EVERY 2 DAY
     Route: 065
  173. HERBALS [Suspect]
     Active Substance: HERBALS
     Route: 048
  174. HERBALS [Suspect]
     Active Substance: HERBALS
     Dosage: 200 MG, Q12H
     Route: 048
  175. HERBALS [Suspect]
     Active Substance: HERBALS
     Dosage: 30 MILLIGRAM, DAILY
     Route: 065
  176. HERBALS [Suspect]
     Active Substance: HERBALS
     Dosage: 20 MG, BID
     Route: 065
  177. HERBALS [Suspect]
     Active Substance: HERBALS
     Dosage: 40 MG, QD
     Route: 048
  178. HERBALS [Suspect]
     Active Substance: HERBALS
     Dosage: 200 MILLIGRAM, 2 EVERY 1 DAYS
     Route: 065
  179. HERBALS [Suspect]
     Active Substance: HERBALS
     Indication: Product used for unknown indication
     Route: 048
  180. HERBALS [Suspect]
     Active Substance: HERBALS
     Route: 048
  181. HERBALS [Suspect]
     Active Substance: HERBALS
     Route: 065
  182. HERBALS [Suspect]
     Active Substance: HERBALS
     Route: 065
  183. HERBALS [Suspect]
     Active Substance: HERBALS
     Route: 065
  184. AGGRENOX [Suspect]
     Active Substance: ASPIRIN\DIPYRIDAMOLE
     Indication: Cerebrovascular accident
     Dosage: 1 DF, DAILY
     Route: 065
  185. AGGRENOX [Suspect]
     Active Substance: ASPIRIN\DIPYRIDAMOLE
     Indication: Arthritis
     Route: 065
  186. AGGRENOX [Suspect]
     Active Substance: ASPIRIN\DIPYRIDAMOLE
     Indication: Hypertension
     Dosage: 650 MILLIGRAM, DAILY
     Route: 065
  187. AGGRENOX [Suspect]
     Active Substance: ASPIRIN\DIPYRIDAMOLE
     Indication: Arthritis
  188. AMBROXOL HYDROCHLORIDE\CLENBUTEROL [Suspect]
     Active Substance: AMBROXOL HYDROCHLORIDE\CLENBUTEROL
     Dosage: 620 MG, Q12H
     Route: 065
  189. AMBROXOL HYDROCHLORIDE\CLENBUTEROL [Suspect]
     Active Substance: AMBROXOL HYDROCHLORIDE\CLENBUTEROL
     Indication: Product used for unknown indication
     Route: 065
  190. AMINOPHYLLINE\BROMHEXINE\CHLORPHENIRAMINE [Suspect]
     Active Substance: AMINOPHYLLINE\BROMHEXINE\CHLORPHENIRAMINE
     Indication: Product used for unknown indication
     Route: 065
  191. AMINOPHYLLINE [Suspect]
     Active Substance: AMINOPHYLLINE
     Indication: Angina pectoris
  192. AMITRIPTYLINE HYDROCHLORIDE\PERPHENAZINE [Suspect]
     Active Substance: AMITRIPTYLINE HYDROCHLORIDE\PERPHENAZINE
     Indication: Duodenal ulcer
     Dosage: 50 MG, DAILY
     Route: 065
  193. AMITRIPTYLINE HYDROCHLORIDE\PERPHENAZINE [Suspect]
     Active Substance: AMITRIPTYLINE HYDROCHLORIDE\PERPHENAZINE
     Indication: Dementia
     Dosage: 60 MG, DAILY
     Route: 065
  194. AMITRIPTYLINE HYDROCHLORIDE\PERPHENAZINE [Suspect]
     Active Substance: AMITRIPTYLINE HYDROCHLORIDE\PERPHENAZINE
     Indication: Arthritis
     Dosage: 600 MILLIGRAM, DAILY
     Route: 065
  195. AMITRIPTYLINE HYDROCHLORIDE\PERPHENAZINE [Suspect]
     Active Substance: AMITRIPTYLINE HYDROCHLORIDE\PERPHENAZINE
     Indication: Fibromyalgia
     Route: 065
  196. AMITRIPTYLINE HYDROCHLORIDE\PERPHENAZINE [Suspect]
     Active Substance: AMITRIPTYLINE HYDROCHLORIDE\PERPHENAZINE
     Indication: Insomnia
     Route: 065
  197. AMITRIPTYLINE HYDROCHLORIDE\PERPHENAZINE [Suspect]
     Active Substance: AMITRIPTYLINE HYDROCHLORIDE\PERPHENAZINE
     Indication: Constipation
     Route: 065
  198. AMITRIPTYLINE HYDROCHLORIDE\PERPHENAZINE [Suspect]
     Active Substance: AMITRIPTYLINE HYDROCHLORIDE\PERPHENAZINE
     Indication: Coronary artery disease
     Route: 065
  199. AMITRIPTYLINE HYDROCHLORIDE\PERPHENAZINE [Suspect]
     Active Substance: AMITRIPTYLINE HYDROCHLORIDE\PERPHENAZINE
     Indication: Hypertension
     Route: 065
  200. AMLODIPINE\TELMISARTAN [Suspect]
     Active Substance: AMLODIPINE\TELMISARTAN
     Indication: Product used for unknown indication
     Route: 065
  201. AMITRIPTYLINE [Suspect]
     Active Substance: AMITRIPTYLINE
     Indication: Duodenal ulcer
     Dosage: 20 MG, Q12H
     Route: 048
  202. AMITRIPTYLINE [Suspect]
     Active Substance: AMITRIPTYLINE
     Indication: Oedema
     Route: 048
  203. AMITRIPTYLINE [Suspect]
     Active Substance: AMITRIPTYLINE
     Indication: Prophylaxis
     Dosage: 25 MILLIGRAM, DAILY
     Route: 065
  204. AMITRIPTYLINE [Suspect]
     Active Substance: AMITRIPTYLINE
     Indication: Dementia
     Dosage: 20 MG, BID
     Route: 065
  205. AMITRIPTYLINE [Suspect]
     Active Substance: AMITRIPTYLINE
     Indication: Insomnia
     Dosage: 50 MILLIGRAM, DAILY
     Route: 065
  206. AMITRIPTYLINE [Suspect]
     Active Substance: AMITRIPTYLINE
     Indication: Pain
     Route: 065
  207. AMITRIPTYLINE [Suspect]
     Active Substance: AMITRIPTYLINE
     Indication: Radioactive iodine therapy
     Dosage: 75 MILLIGRAM 1EVERY 1 DAY
     Route: 065
  208. AMITRIPTYLINE [Suspect]
     Active Substance: AMITRIPTYLINE
     Indication: Angina pectoris
     Route: 065
  209. AMITRIPTYLINE [Suspect]
     Active Substance: AMITRIPTYLINE
     Indication: Fibromyalgia
     Route: 048
  210. AMITRIPTYLINE [Suspect]
     Active Substance: AMITRIPTYLINE
     Indication: Thyroid disorder
     Route: 065
  211. AMITRIPTYLINE [Suspect]
     Active Substance: AMITRIPTYLINE
     Indication: Arthritis
  212. AMITRIPTYLINE [Suspect]
     Active Substance: AMITRIPTYLINE
     Indication: Chest pain
  213. AMITRIPTYLINE [Suspect]
     Active Substance: AMITRIPTYLINE
     Indication: Constipation
  214. AMITRIPTYLINE [Suspect]
     Active Substance: AMITRIPTYLINE
     Indication: Coronary artery disease
  215. AMITRIPTYLINE [Suspect]
     Active Substance: AMITRIPTYLINE
     Indication: Hypertension
  216. AMITRIPTYLINE [Suspect]
     Active Substance: AMITRIPTYLINE
     Indication: Product used for unknown indication
  217. CARBAMAZEPINE [Suspect]
     Active Substance: CARBAMAZEPINE
     Indication: Product used for unknown indication
     Route: 065
  218. CARBAMAZEPINE [Suspect]
     Active Substance: CARBAMAZEPINE
     Route: 065
  219. CARBAMAZEPINE [Suspect]
     Active Substance: CARBAMAZEPINE
     Dosage: 25 MG, DAILY
     Route: 065
  220. CARBAMAZEPINE [Suspect]
     Active Substance: CARBAMAZEPINE
     Route: 065
  221. CARBAMAZEPINE [Suspect]
     Active Substance: CARBAMAZEPINE
     Dosage: 50 MG, DAILY
     Route: 065
  222. CARBAMAZEPINE [Suspect]
     Active Substance: CARBAMAZEPINE
     Route: 065
  223. CARBAMAZEPINE [Suspect]
     Active Substance: CARBAMAZEPINE
     Route: 065
  224. CARBAMAZEPINE [Suspect]
     Active Substance: CARBAMAZEPINE
     Route: 065
  225. CARBAMAZEPINE [Suspect]
     Active Substance: CARBAMAZEPINE
     Dosage: 75 MG, DAILY
     Route: 065
  226. CARBAMAZEPINE [Suspect]
     Active Substance: CARBAMAZEPINE
     Route: 065
  227. CARBAMAZEPINE [Suspect]
     Active Substance: CARBAMAZEPINE
     Dosage: 750 MILLIGRAM, DAILY
     Route: 065
  228. DILTIAZEM HYDROCHLORIDE [Suspect]
     Active Substance: DILTIAZEM HYDROCHLORIDE
     Indication: Hypertension
     Dosage: 360 MG, DAILY
     Route: 065
  229. DILTIAZEM HYDROCHLORIDE [Suspect]
     Active Substance: DILTIAZEM HYDROCHLORIDE
     Dosage: 360 MG, DAILY
     Route: 065
  230. DILTIAZEM HYDROCHLORIDE [Suspect]
     Active Substance: DILTIAZEM HYDROCHLORIDE
     Indication: Angina pectoris
     Route: 065
  231. DILTIAZEM HYDROCHLORIDE [Suspect]
     Active Substance: DILTIAZEM HYDROCHLORIDE
     Indication: Chest pain
     Route: 065
  232. DILTIAZEM HYDROCHLORIDE [Suspect]
     Active Substance: DILTIAZEM HYDROCHLORIDE
     Indication: Coronary artery disease
     Route: 065
  233. OXAZEPAM [Suspect]
     Active Substance: OXAZEPAM
     Indication: Product used for unknown indication
     Route: 065
  234. CYCLOBENZAPRINE [Suspect]
     Active Substance: CYCLOBENZAPRINE
     Indication: Product used for unknown indication
     Route: 065
  235. ASPIRIN [Suspect]
     Active Substance: ASPIRIN
     Indication: Hypertension
     Route: 065
  236. ASPIRIN [Suspect]
     Active Substance: ASPIRIN
     Indication: Angina pectoris
  237. ASPIRIN [Suspect]
     Active Substance: ASPIRIN
     Indication: Coronary artery disease
  238. BISACODYL [Suspect]
     Active Substance: BISACODYL
     Indication: Constipation
     Route: 048
  239. CALCIUM CARBONATE [Suspect]
     Active Substance: CALCIUM CARBONATE
     Indication: Product used for unknown indication
     Route: 065
  240. CALCIUM CARBONATE [Suspect]
     Active Substance: CALCIUM CARBONATE
     Route: 065
  241. CARBAMAZEPINE [Suspect]
     Active Substance: CARBAMAZEPINE
     Indication: Seizure
     Route: 065
  242. CARBAMAZEPINE [Suspect]
     Active Substance: CARBAMAZEPINE
     Indication: Seizure prophylaxis
     Route: 065
  243. CARBAMAZEPINE [Suspect]
     Active Substance: CARBAMAZEPINE
     Indication: Bladder disorder
  244. CARBAMAZEPINE [Suspect]
     Active Substance: CARBAMAZEPINE
     Indication: Fibromyalgia
  245. CARBAMAZEPINE [Suspect]
     Active Substance: CARBAMAZEPINE
     Indication: Pain
  246. CARBAMAZEPINE [Suspect]
     Active Substance: CARBAMAZEPINE
     Indication: Prophylaxis
  247. CARBAMAZEPINE [Suspect]
     Active Substance: CARBAMAZEPINE
     Indication: Seizure prophylaxis
  248. CAFFEINE [Suspect]
     Active Substance: CAFFEINE
     Indication: Product used for unknown indication
     Route: 065
  249. CRANBERRY [Suspect]
     Active Substance: CRANBERRY
     Indication: Product used for unknown indication
     Route: 065
  250. CRANBERRY JUICE [Suspect]
     Active Substance: CRANBERRY JUICE
     Dosage: 1500 MILLIGRAM, DAILY
     Route: 065
  251. CRANBERRY JUICE [Suspect]
     Active Substance: CRANBERRY JUICE
     Indication: Bladder disorder
     Dosage: 500 MG, Q8H
     Route: 065
  252. CRANBERRY JUICE [Suspect]
     Active Substance: CRANBERRY JUICE
     Dosage: 500 MG, Q8H
     Route: 065
  253. CRANBERRY JUICE [Suspect]
     Active Substance: CRANBERRY JUICE
     Route: 065
  254. CRANBERRY JUICE [Suspect]
     Active Substance: CRANBERRY JUICE
     Route: 065
  255. CRANBERRY JUICE [Suspect]
     Active Substance: CRANBERRY JUICE
     Route: 065
  256. CYCLOBENZAPRINE [Suspect]
     Active Substance: CYCLOBENZAPRINE
     Dosage: 20 MG, DAILY
     Route: 065
  257. CYCLOBENZAPRINE [Suspect]
     Active Substance: CYCLOBENZAPRINE
     Dosage: 20 MG, DAILY
     Route: 065
  258. CYCLOBENZAPRINE [Suspect]
     Active Substance: CYCLOBENZAPRINE
     Dosage: 20 MG, DAILY
     Route: 065
  259. CYCLOBENZAPRINE [Suspect]
     Active Substance: CYCLOBENZAPRINE
     Dosage: 20 MILLIGRAM, Q12H
     Route: 065
  260. CYCLOBENZAPRINE [Suspect]
     Active Substance: CYCLOBENZAPRINE
     Dosage: 200 MILLIGRAM, 4 EVERY 1 DAY
     Route: 065
  261. CYCLOBENZAPRINE [Suspect]
     Active Substance: CYCLOBENZAPRINE
     Dosage: 40 MG, DAILY
     Route: 048
  262. CYCLOBENZAPRINE [Suspect]
     Active Substance: CYCLOBENZAPRINE
     Indication: Product used for unknown indication
     Dosage: 40 MG, DAILY
     Route: 065
  263. CYCLOBENZAPRINE [Suspect]
     Active Substance: CYCLOBENZAPRINE
     Dosage: 40 MG, DAILY
     Route: 065
  264. CYCLOBENZAPRINE [Suspect]
     Active Substance: CYCLOBENZAPRINE
     Dosage: 40 MG, DAILY
     Route: 065
  265. CYCLOBENZAPRINE [Suspect]
     Active Substance: CYCLOBENZAPRINE
     Dosage: 40 MG, QD
     Route: 065
  266. CYCLOBENZAPRINE [Suspect]
     Active Substance: CYCLOBENZAPRINE
     Dosage: 400 MG, DAILY
     Route: 065
  267. CYCLOBENZAPRINE [Suspect]
     Active Substance: CYCLOBENZAPRINE
     Dosage: 800 MG, DAILY
     Route: 065
  268. CYCLOBENZAPRINE [Suspect]
     Active Substance: CYCLOBENZAPRINE
     Route: 065
  269. CYCLOBENZAPRINE [Suspect]
     Active Substance: CYCLOBENZAPRINE
     Route: 065
  270. DIAZEPAM [Suspect]
     Active Substance: DIAZEPAM
     Route: 065
  271. DIAZEPAM [Suspect]
     Active Substance: DIAZEPAM
     Dosage: 115 MILLIGRAM, DAILY
     Route: 065
  272. DIAZEPAM [Suspect]
     Active Substance: DIAZEPAM
     Dosage: 15 MG, QD
     Route: 065
  273. DIAZEPAM [Suspect]
     Active Substance: DIAZEPAM
     Dosage: 300 MG, DAILY
     Route: 065
  274. DIAZEPAM [Suspect]
     Active Substance: DIAZEPAM
     Dosage: 36 MILLIGRAM, DAILY
     Route: 065
  275. DIAZEPAM [Suspect]
     Active Substance: DIAZEPAM
     Dosage: 360 MG, DAILY
     Route: 065
  276. DIAZEPAM [Suspect]
     Active Substance: DIAZEPAM
     Dosage: 360 MG, DAILY
     Route: 065
  277. DIAZEPAM [Suspect]
     Active Substance: DIAZEPAM
     Dosage: 360 MG, DAILY
     Route: 065
  278. DIAZEPAM [Suspect]
     Active Substance: DIAZEPAM
     Dosage: 360 MG, DAILY
     Route: 065
  279. DIAZEPAM [Suspect]
     Active Substance: DIAZEPAM
     Dosage: 360 MG, DAILY
     Route: 065
  280. DIAZEPAM [Suspect]
     Active Substance: DIAZEPAM
     Dosage: 360 MG, DAILY
     Route: 065
  281. DIAZEPAM [Suspect]
     Active Substance: DIAZEPAM
     Route: 065
  282. DIAZEPAM [Suspect]
     Active Substance: DIAZEPAM
     Dosage: 500 MILLIGRAM, DAILY
     Route: 065
  283. DIAZEPAM [Suspect]
     Active Substance: DIAZEPAM
     Dosage: 75 MG, QD
     Route: 065
  284. DIAZEPAM [Suspect]
     Active Substance: DIAZEPAM
     Indication: Product used for unknown indication
     Route: 065
  285. DIAZEPAM [Suspect]
     Active Substance: DIAZEPAM
     Route: 065
  286. DILTIAZEM [Suspect]
     Active Substance: DILTIAZEM
     Dosage: 360 MG, DAILY
     Route: 065
  287. DILTIAZEM [Suspect]
     Active Substance: DILTIAZEM
     Indication: Product used for unknown indication
     Dosage: 500 MG, DAILY
     Route: 065
  288. DILTIAZEM HYDROCHLORIDE [Suspect]
     Active Substance: DILTIAZEM HYDROCHLORIDE
     Indication: Product used for unknown indication
     Dosage: 6 MG, DAILY(1 EVERY 1 DAYS)
     Route: 065
  289. DIPYRIDAMOLE [Suspect]
     Active Substance: DIPYRIDAMOLE
     Dosage: 10 MILLIGRAM, DAILY
     Route: 065
  290. DIPYRIDAMOLE [Suspect]
     Active Substance: DIPYRIDAMOLE
     Dosage: 1240 MILLIGRAM, DAILY
     Route: 065
  291. DIPYRIDAMOLE [Suspect]
     Active Substance: DIPYRIDAMOLE
     Dosage: 1244 MG, DAILY
     Route: 065
  292. DIPYRIDAMOLE [Suspect]
     Active Substance: DIPYRIDAMOLE
     Dosage: 1 DF, BID
     Route: 065
  293. DIPYRIDAMOLE [Suspect]
     Active Substance: DIPYRIDAMOLE
     Dosage: 1244 MILLIGRAM, BID(1 EVERY 12HOURS)2
     Route: 065
  294. DIPYRIDAMOLE [Suspect]
     Active Substance: DIPYRIDAMOLE
     Dosage: 2 DOSAGE FORM, BID
     Route: 065
  295. DIPYRIDAMOLE [Suspect]
     Active Substance: DIPYRIDAMOLE
     Dosage: 311 MG, 2 EVERY 1 DAYS
     Route: 065
  296. DIPYRIDAMOLE [Suspect]
     Active Substance: DIPYRIDAMOLE
     Dosage: 622 MG, DAILY
     Route: 065
  297. DIPYRIDAMOLE [Suspect]
     Active Substance: DIPYRIDAMOLE
     Dosage: 622 MG, Q12H
     Route: 065
  298. DIPYRIDAMOLE [Suspect]
     Active Substance: DIPYRIDAMOLE
     Indication: Product used for unknown indication
     Route: 065
  299. DIPYRIDAMOLE [Suspect]
     Active Substance: DIPYRIDAMOLE
     Dosage: 2 DF, DAILY
     Route: 065
  300. DIPYRIDAMOLE [Suspect]
     Active Substance: DIPYRIDAMOLE
     Dosage: UNK, BID
     Route: 065
  301. DIPYRIDAMOLE [Suspect]
     Active Substance: DIPYRIDAMOLE
     Dosage: UNK, DAILY
     Route: 065
  302. DIPYRIDAMOLE [Suspect]
     Active Substance: DIPYRIDAMOLE
     Route: 065
  303. DOCUSATE SODIUM [Suspect]
     Active Substance: DOCUSATE SODIUM
     Dosage: 16 MILLIGRAM, DAILY
     Route: 065
  304. DOCUSATE SODIUM [Suspect]
     Active Substance: DOCUSATE SODIUM
     Indication: Constipation
     Dosage: 18 MILLIGRAM, DAILY
     Route: 065
  305. DOCUSATE SODIUM [Suspect]
     Active Substance: DOCUSATE SODIUM
     Route: 065
  306. DROTAVERINE [Suspect]
     Active Substance: DROTAVERINE
     Indication: Product used for unknown indication
     Route: 065
  307. DULCOLAX (BISACODYL) [Suspect]
     Active Substance: BISACODYL
     Indication: Hypertension
     Dosage: 2 DF, DAILY
     Route: 048
  308. DULCOLAX (BISACODYL) [Suspect]
     Active Substance: BISACODYL
     Route: 048
  309. ERGOCALCIFEROL [Suspect]
     Active Substance: ERGOCALCIFEROL
     Indication: Product used for unknown indication
     Route: 065
  310. FUROSEMIDE [Suspect]
     Active Substance: FUROSEMIDE
     Dosage: 1000 MG, DAILY
     Route: 065
  311. FUROSEMIDE [Suspect]
     Active Substance: FUROSEMIDE
     Dosage: 500 MG, BID
     Route: 065
  312. FUROSEMIDE [Suspect]
     Active Substance: FUROSEMIDE
     Dosage: 250 MILLIGRAM, DAILY
     Route: 065
  313. FUROSEMIDE [Suspect]
     Active Substance: FUROSEMIDE
     Dosage: 2500 MILLIGRAM, DAILY
     Route: 065
  314. FUROSEMIDE [Suspect]
     Active Substance: FUROSEMIDE
     Dosage: 500 MG, 5/DAY
     Route: 065
  315. FUROSEMIDE [Suspect]
     Active Substance: FUROSEMIDE
     Dosage: 250 MG, BID
     Route: 065
  316. FUROSEMIDE [Suspect]
     Active Substance: FUROSEMIDE
     Dosage: 500 MG, DAILY
     Route: 065
  317. FUROSEMIDE [Suspect]
     Active Substance: FUROSEMIDE
     Indication: Product used for unknown indication
     Dosage: 500 MG, Q1H
     Route: 065
  318. FUROSEMIDE [Suspect]
     Active Substance: FUROSEMIDE
     Dosage: 500 MG, Q1H
     Route: 065
  319. FUROSEMIDE [Suspect]
     Active Substance: FUROSEMIDE
     Dosage: 500 MG, Q12H
     Route: 065
  320. FUROSEMIDE [Suspect]
     Active Substance: FUROSEMIDE
     Dosage: 250 MG, 2 EVERY 2 DAYS
     Route: 065
  321. FUROSEMIDE [Suspect]
     Active Substance: FUROSEMIDE
     Dosage: 500 MILLIGRAM 1 EVERY 5 DAYS
     Route: 065
  322. FUROSEMIDE [Suspect]
     Active Substance: FUROSEMIDE
     Route: 065
  323. FUROSEMIDE [Suspect]
     Active Substance: FUROSEMIDE
     Route: 065
  324. FUROSEMIDE [Suspect]
     Active Substance: FUROSEMIDE
     Route: 065
  325. FRUCTOSE\GLYCERIN\SODIUM CHLORIDE [Suspect]
     Active Substance: FRUCTOSE\GLYCERIN\SODIUM CHLORIDE
     Dosage: 0.4 MG, DAILY
     Route: 065
  326. FRUCTOSE\GLYCERIN\SODIUM CHLORIDE [Suspect]
     Active Substance: FRUCTOSE\GLYCERIN\SODIUM CHLORIDE
     Route: 065
  327. FRUCTOSE\GLYCERIN\SODIUM CHLORIDE [Suspect]
     Active Substance: FRUCTOSE\GLYCERIN\SODIUM CHLORIDE
     Dosage: 1 DF, DAILY
     Route: 065
  328. FRUCTOSE\GLYCERIN\SODIUM CHLORIDE [Suspect]
     Active Substance: FRUCTOSE\GLYCERIN\SODIUM CHLORIDE
     Dosage: 4 MILLIGRAM, DAILY
     Route: 065
  329. FRUCTOSE\GLYCERIN\SODIUM CHLORIDE [Suspect]
     Active Substance: FRUCTOSE\GLYCERIN\SODIUM CHLORIDE
     Route: 064
  330. FRUCTOSE\GLYCERIN\SODIUM CHLORIDE [Suspect]
     Active Substance: FRUCTOSE\GLYCERIN\SODIUM CHLORIDE
     Indication: Product used for unknown indication
     Route: 065
  331. GALANTAMINE [Suspect]
     Active Substance: GALANTAMINE
     Indication: Product used for unknown indication
     Dosage: 15 MG, DAILY
     Route: 065
  332. GALANTAMINE [Suspect]
     Active Substance: GALANTAMINE
     Dosage: 15 MG, DAILY
     Route: 065
  333. GALANTAMINE [Suspect]
     Active Substance: GALANTAMINE
     Dosage: 15 MG, DAILY
     Route: 065
  334. GALANTAMINE [Suspect]
     Active Substance: GALANTAMINE
     Dosage: UNK, 1 EVERY 1 DAYS
     Route: 065
  335. GALANTAMINE [Suspect]
     Active Substance: GALANTAMINE
     Route: 065
  336. GALANTAMINE HYDROBROMIDE [Suspect]
     Active Substance: GALANTAMINE HYDROBROMIDE
     Indication: Dementia
     Dosage: 40 MG, DAILY16 MG, 1 EVERY 1 DAY
     Route: 065
  337. GALANTAMINE HYDROBROMIDE [Suspect]
     Active Substance: GALANTAMINE HYDROBROMIDE
     Route: 065
  338. GALANTAMINE HYDROBROMIDE [Suspect]
     Active Substance: GALANTAMINE HYDROBROMIDE
     Indication: Product used for unknown indication
     Route: 065
  339. GALANTAMINE HYDROBROMIDE [Suspect]
     Active Substance: GALANTAMINE HYDROBROMIDE
     Indication: Constipation
     Route: 065
  340. GLUCOSAMINE [Suspect]
     Active Substance: GLUCOSAMINE
     Indication: Arthritis
     Dosage: 10 MG, DAILY
     Route: 030
  341. GLUCOSAMINE [Suspect]
     Active Substance: GLUCOSAMINE
     Dosage: 500 MG, Q12H
     Route: 065
  342. GLUCOSAMINE [Suspect]
     Active Substance: GLUCOSAMINE
     Route: 065
  343. GLUCOSAMINE [Suspect]
     Active Substance: GLUCOSAMINE
     Indication: Pain
     Dosage: 20 MILLIGRAM, DAILY
     Route: 030
  344. GLUCOSAMINE [Suspect]
     Active Substance: GLUCOSAMINE
     Route: 065
  345. GLUCOSAMINE [Suspect]
     Active Substance: GLUCOSAMINE
     Route: 065
  346. GLUCOSAMINE [Suspect]
     Active Substance: GLUCOSAMINE
     Route: 065
  347. GLUCOSAMINE [Suspect]
     Active Substance: GLUCOSAMINE
     Dosage: 500 MG, Q12H
     Route: 065
  348. GLUCOSAMINE [Suspect]
     Active Substance: GLUCOSAMINE
     Indication: Product used for unknown indication
     Dosage: 500 MG, Q12H
     Route: 065
  349. GLUCOSAMINE [Suspect]
     Active Substance: GLUCOSAMINE
     Route: 065
  350. GLUCOSAMINE [Suspect]
     Active Substance: GLUCOSAMINE
     Route: 065
  351. GLUCOSAMINE [Suspect]
     Active Substance: GLUCOSAMINE
     Route: 065
  352. GLUCOSAMINE [Suspect]
     Active Substance: GLUCOSAMINE
     Route: 065
  353. GLUCOSAMINE [Suspect]
     Active Substance: GLUCOSAMINE
     Route: 065
  354. GLUCOSAMINE [Suspect]
     Active Substance: GLUCOSAMINE
     Route: 065
  355. CHONDROITIN SULFATE (BOVINE)\GLUCOSAMINE SULFATE [Suspect]
     Active Substance: CHONDROITIN SULFATE (BOVINE)\GLUCOSAMINE SULFATE
     Indication: Product used for unknown indication
     Route: 065
  356. CHONDROITIN SULFATE (BOVINE)\GLUCOSAMINE SULFATE [Suspect]
     Active Substance: CHONDROITIN SULFATE (BOVINE)\GLUCOSAMINE SULFATE
     Indication: Product used for unknown indication
     Route: 065
  357. GLUCOSAMINE SULFATE [Suspect]
     Active Substance: GLUCOSAMINE SULFATE
     Route: 065
  358. GLUCOSAMINE SULFATE [Suspect]
     Active Substance: GLUCOSAMINE SULFATE
     Dosage: 5 MILLIGRAM, DAILY
     Route: 065
  359. GLUCOSAMINE SULFATE [Suspect]
     Active Substance: GLUCOSAMINE SULFATE
     Dosage: 50 MG, DAILY
     Route: 065
  360. GLUCOSAMINE SULFATE [Suspect]
     Active Substance: GLUCOSAMINE SULFATE
     Dosage: 50 MG, DAILY
     Route: 065
  361. GLUCOSAMINE SULFATE [Suspect]
     Active Substance: GLUCOSAMINE SULFATE
     Route: 065
  362. GLUCOSAMINE SULFATE [Suspect]
     Active Substance: GLUCOSAMINE SULFATE
     Route: 065
  363. GLUCOSAMINE SULFATE [Suspect]
     Active Substance: GLUCOSAMINE SULFATE
     Dosage: 75 MG, DAILY
     Route: 065
  364. GLUCOSAMINE SULFATE [Suspect]
     Active Substance: GLUCOSAMINE SULFATE
     Dosage: 75 MG, DAILY
     Route: 065
  365. GLUCOSAMINE SULFATE [Suspect]
     Active Substance: GLUCOSAMINE SULFATE
     Dosage: 75 MG, DAILY
     Route: 065
  366. GLUCOSAMINE SULFATE [Suspect]
     Active Substance: GLUCOSAMINE SULFATE
     Route: 065
  367. GLUCOSAMINE SULFATE [Suspect]
     Active Substance: GLUCOSAMINE SULFATE
     Route: 048
  368. GLUCOSAMINE SULFATE [Suspect]
     Active Substance: GLUCOSAMINE SULFATE
     Indication: Product used for unknown indication
     Route: 065
  369. GLUCOSAMINE SULFATE [Suspect]
     Active Substance: GLUCOSAMINE SULFATE
     Route: 065
  370. GLUCOSAMINE SULFATE [Suspect]
     Active Substance: GLUCOSAMINE SULFATE
     Route: 065
  371. GLUCOSAMINE SULFATE [Suspect]
     Active Substance: GLUCOSAMINE SULFATE
     Route: 065
  372. GLUCOSAMINE SULFATE [Suspect]
     Active Substance: GLUCOSAMINE SULFATE
     Route: 065
  373. GLUCOSAMINE SULFATE [Suspect]
     Active Substance: GLUCOSAMINE SULFATE
     Route: 065
  374. GLYCERIN [Suspect]
     Active Substance: GLYCERIN
     Indication: Product used for unknown indication
     Route: 065
  375. NITROGLYCERIN [Suspect]
     Active Substance: NITROGLYCERIN
     Indication: Coronary artery disease
     Route: 065
  376. NITROGLYCERIN [Suspect]
     Active Substance: NITROGLYCERIN
     Dosage: 15 MILLIGRAM, Q8H
     Route: 065
  377. NITROGLYCERIN [Suspect]
     Active Substance: NITROGLYCERIN
     Route: 065
  378. NITROGLYCERIN [Suspect]
     Active Substance: NITROGLYCERIN
     Indication: Angina pectoris
     Dosage: 5 MILLIGRAM, Q8H
     Route: 065
  379. NITROGLYCERIN [Suspect]
     Active Substance: NITROGLYCERIN
     Dosage: 5 MILLIGRAM,3 EVERY 1 DAYS
     Route: 065
  380. NITROGLYCERIN [Suspect]
     Active Substance: NITROGLYCERIN
     Indication: Hypertension
     Route: 065
  381. NITROGLYCERIN [Suspect]
     Active Substance: NITROGLYCERIN
     Indication: Chest pain
     Route: 065
  382. NITROGLYCERIN [Suspect]
     Active Substance: NITROGLYCERIN
     Indication: Product used for unknown indication
     Route: 065
  383. NITROGLYCERIN [Suspect]
     Active Substance: NITROGLYCERIN
     Route: 065
  384. HYDROCHLOROTHIAZIDE\QUINAPRIL HYDROCHLORIDE [Suspect]
     Active Substance: HYDROCHLOROTHIAZIDE\QUINAPRIL HYDROCHLORIDE
     Indication: Product used for unknown indication
     Route: 065
  385. LACTULOSE [Suspect]
     Active Substance: LACTULOSE
     Indication: Constipation
     Dosage: 15 MG, DAILY
     Route: 048
  386. LACTULOSE [Suspect]
     Active Substance: LACTULOSE
     Dosage: 15 MG, DAILY
     Route: 048
  387. LACTULOSE [Suspect]
     Active Substance: LACTULOSE
     Dosage: 15 MG, DAILY
     Route: 048
  388. LACTULOSE [Suspect]
     Active Substance: LACTULOSE
     Indication: Radioactive iodine therapy
     Dosage: 15 MILLIGRAM, DAILY
     Route: 065
  389. LACTULOSE [Suspect]
     Active Substance: LACTULOSE
     Indication: Thyroid disorder
     Dosage: 15 MG, UNK
     Route: 048
  390. LACTULOSE [Suspect]
     Active Substance: LACTULOSE
     Route: 048
  391. LACTULOSE [Suspect]
     Active Substance: LACTULOSE
     Dosage: 15 ML, DAILY
     Route: 065
  392. LACTULOSE [Suspect]
     Active Substance: LACTULOSE
     Route: 048
  393. LACTULOSE [Suspect]
     Active Substance: LACTULOSE
     Route: 065
  394. LACTULOSE [Suspect]
     Active Substance: LACTULOSE
     Indication: Urinary tract infection
     Route: 048
  395. LACTULOSE [Suspect]
     Active Substance: LACTULOSE
     Route: 065
  396. LACTULOSE [Suspect]
     Active Substance: LACTULOSE
     Dosage: 2 DOSAGE FORM, DAILY
     Route: 065
  397. LACTULOSE [Suspect]
     Active Substance: LACTULOSE
     Route: 048
  398. LEVOFLOXACIN [Suspect]
     Active Substance: LEVOFLOXACIN
     Indication: Radioactive iodine therapy
     Route: 065
  399. LEVOFLOXACIN [Suspect]
     Active Substance: LEVOFLOXACIN
     Dosage: 200 MILLIGRAM, DAILY
     Route: 065
  400. LEVOFLOXACIN [Suspect]
     Active Substance: LEVOFLOXACIN
     Dosage: 250 MG, DAILY
     Route: 065
  401. LEVOFLOXACIN [Suspect]
     Active Substance: LEVOFLOXACIN
     Indication: Urinary tract infection
     Dosage: 250 MG, Q12H
     Route: 065
  402. LEVOFLOXACIN [Suspect]
     Active Substance: LEVOFLOXACIN
     Indication: Thyroid disorder
     Route: 065
  403. LEVOFLOXACIN [Suspect]
     Active Substance: LEVOFLOXACIN
     Route: 065
  404. LEVOFLOXACIN [Suspect]
     Active Substance: LEVOFLOXACIN
     Indication: Urinary tract infection
     Dosage: 200 MG, DAILY
     Route: 065
  405. LEVOFLOXACIN [Suspect]
     Active Substance: LEVOFLOXACIN
     Dosage: 250 MILLIGRAM, DAILY
     Route: 065
  406. LEVOTHYROXINE [Suspect]
     Active Substance: LEVOTHYROXINE
     Dosage: 1 DF, DAILY
     Route: 065
  407. LEVOTHYROXINE [Suspect]
     Active Substance: LEVOTHYROXINE
     Dosage: 1 DOSAGE FORM, Q12H
     Route: 065
  408. LEVOTHYROXINE [Suspect]
     Active Substance: LEVOTHYROXINE
     Dosage: 1 DOSAGE FORM, 1 EVERY 12 HOURS
     Route: 065
  409. LEVOTHYROXINE [Suspect]
     Active Substance: LEVOTHYROXINE
     Route: 065
  410. LEVOTHYROXINE [Suspect]
     Active Substance: LEVOTHYROXINE
     Dosage: 100 MILLIGRAM, DAILY
     Route: 065
  411. LEVOTHYROXINE [Suspect]
     Active Substance: LEVOTHYROXINE
     Dosage: 100 MG, Q12H
     Route: 065
  412. LEVOTHYROXINE [Suspect]
     Active Substance: LEVOTHYROXINE
     Route: 065
  413. LEVOTHYROXINE [Suspect]
     Active Substance: LEVOTHYROXINE
     Dosage: 2 DF, DAILY
     Route: 065
  414. LEVOTHYROXINE [Suspect]
     Active Substance: LEVOTHYROXINE
     Dosage: 2 DF, Q12H
     Route: 065
  415. LEVOTHYROXINE [Suspect]
     Active Substance: LEVOTHYROXINE
     Dosage: 200 MG, DAILY
     Route: 065
  416. LEVOTHYROXINE [Suspect]
     Active Substance: LEVOTHYROXINE
     Indication: Product used for unknown indication
     Dosage: 200 MILLIGRAM
     Route: 065
  417. LEVOTHYROXINE [Suspect]
     Active Substance: LEVOTHYROXINE
     Dosage: 200 MG, Q12H
     Route: 065
  418. LEVOTHYROXINE [Suspect]
     Active Substance: LEVOTHYROXINE
     Dosage: 200 MG, Q12H
     Route: 065
  419. LEVOTHYROXINE [Suspect]
     Active Substance: LEVOTHYROXINE
     Dosage: 200 MG, 1 EVERY 2 DAYS
     Route: 065
  420. LEVOTHYROXINE [Suspect]
     Active Substance: LEVOTHYROXINE
     Dosage: 200 MG, QOD
     Route: 065
  421. LEVOTHYROXINE [Suspect]
     Active Substance: LEVOTHYROXINE
     Dosage: 400 MILLIGRAM, 1 EVERY 5 DAYS
     Route: 065
  422. LEVOTHYROXINE [Suspect]
     Active Substance: LEVOTHYROXINE
     Dosage: 400 MILLIGRAM, DAILY
     Route: 065
  423. LEVOTHYROXINE [Suspect]
     Active Substance: LEVOTHYROXINE
     Dosage: 400 MG, Q12H
     Route: 065
  424. LEVOTHYROXINE [Suspect]
     Active Substance: LEVOTHYROXINE
     Dosage: 500 MILLIGRAM, Q12H
     Route: 065
  425. LEVOTHYROXINE [Suspect]
     Active Substance: LEVOTHYROXINE
     Dosage: 800 MILLIGRAM, Q12H
     Route: 065
  426. LEVOTHYROXINE [Suspect]
     Active Substance: LEVOTHYROXINE
     Dosage: UNK, Q12H(1 EVERY 12 HOURS)
     Route: 065
  427. LEVOTHYROXINE [Suspect]
     Active Substance: LEVOTHYROXINE
     Route: 065
  428. LEVOTHYROXINE SODIUM [Suspect]
     Active Substance: LEVOTHYROXINE SODIUM
     Dosage: 0.088 MG, DAILY
     Route: 065
  429. LEVOTHYROXINE SODIUM [Suspect]
     Active Substance: LEVOTHYROXINE SODIUM
     Dosage: 0.088 MG, DAILY
     Route: 065
  430. LEVOTHYROXINE SODIUM [Suspect]
     Active Substance: LEVOTHYROXINE SODIUM
     Dosage: 0.09 MILLIGRAM
     Route: 048
  431. LEVOTHYROXINE SODIUM [Suspect]
     Active Substance: LEVOTHYROXINE SODIUM
     Indication: Constipation
     Dosage: 0.8 MG, DAILY
     Route: 065
  432. LEVOTHYROXINE SODIUM [Suspect]
     Active Substance: LEVOTHYROXINE SODIUM
     Indication: Radioactive iodine therapy
     Dosage: 0.8 MG, DAILY
     Route: 065
  433. LEVOTHYROXINE SODIUM [Suspect]
     Active Substance: LEVOTHYROXINE SODIUM
     Dosage: 0.088 MG, DAILY
     Route: 065
  434. LEVOTHYROXINE SODIUM [Suspect]
     Active Substance: LEVOTHYROXINE SODIUM
     Dosage: 0.088 MG, DAILY
     Route: 065
  435. LEVOTHYROXINE SODIUM [Suspect]
     Active Substance: LEVOTHYROXINE SODIUM
     Dosage: 0.9 MILLIGRAM, DAILY
     Route: 065
  436. LEVOTHYROXINE SODIUM [Suspect]
     Active Substance: LEVOTHYROXINE SODIUM
     Dosage: 622 MG,1 EVERY 12 HOURS
     Route: 065
  437. LEVOTHYROXINE SODIUM [Suspect]
     Active Substance: LEVOTHYROXINE SODIUM
     Dosage: 88 MILLIGRAM, DAILY
     Route: 065
  438. LEVOTHYROXINE SODIUM [Suspect]
     Active Substance: LEVOTHYROXINE SODIUM
     Indication: Urinary tract infection
     Dosage: UNK UNK, QD
     Route: 065
  439. LEVOTHYROXINE SODIUM [Suspect]
     Active Substance: LEVOTHYROXINE SODIUM
     Indication: Thyroid disorder
     Route: 065
  440. MORPHINE SULFATE [Suspect]
     Active Substance: MORPHINE SULFATE
     Dosage: 0.08 MILLIGRAM, DAILY
     Route: 065
  441. MORPHINE SULFATE [Suspect]
     Active Substance: MORPHINE SULFATE
     Dosage: 0.088 MG, UNK
     Route: 065
  442. MORPHINE SULFATE [Suspect]
     Active Substance: MORPHINE SULFATE
     Dosage: 0.088 MG, DAILY
     Route: 065
  443. MORPHINE SULFATE [Suspect]
     Active Substance: MORPHINE SULFATE
     Dosage: 0.09 MG, DAILY
     Route: 065
  444. MORPHINE SULFATE [Suspect]
     Active Substance: MORPHINE SULFATE
     Indication: Product used for unknown indication
     Route: 048
  445. MORPHINE SULFATE [Suspect]
     Active Substance: MORPHINE SULFATE
     Route: 048
  446. MORPHINE SULFATE [Suspect]
     Active Substance: MORPHINE SULFATE
     Dosage: 0.8 MG, DAILY
     Route: 065
  447. MORPHINE SULFATE [Suspect]
     Active Substance: MORPHINE SULFATE
     Route: 048
  448. MORPHINE SULFATE [Suspect]
     Active Substance: MORPHINE SULFATE
     Dosage: 0.9 MILLIGRAM, DAILY
     Route: 048
  449. MORPHINE SULFATE [Suspect]
     Active Substance: MORPHINE SULFATE
     Dosage: 1 DF, DAILY
     Route: 065
  450. MORPHINE SULFATE [Suspect]
     Active Substance: MORPHINE SULFATE
     Dosage: 1 DF, DAILY
     Route: 065
  451. MORPHINE SULFATE [Suspect]
     Active Substance: MORPHINE SULFATE
     Route: 065
  452. MORPHINE SULFATE [Suspect]
     Active Substance: MORPHINE SULFATE
     Indication: Pain
     Dosage: 10 MG, QD
     Route: 065
  453. MORPHINE SULFATE [Suspect]
     Active Substance: MORPHINE SULFATE
     Dosage: 10 MG, QD
     Route: 065
  454. MORPHINE SULFATE [Suspect]
     Active Substance: MORPHINE SULFATE
     Dosage: 10 MG, QD
     Route: 065
  455. MORPHINE SULFATE [Suspect]
     Active Substance: MORPHINE SULFATE
     Route: 065
  456. MORPHINE SULFATE [Suspect]
     Active Substance: MORPHINE SULFATE
     Route: 065
  457. MORPHINE SULFATE [Suspect]
     Active Substance: MORPHINE SULFATE
     Indication: Fibromyalgia
     Dosage: 100 MG, QD
     Route: 065
  458. MORPHINE SULFATE [Suspect]
     Active Substance: MORPHINE SULFATE
     Dosage: 622 MG,1 EVERY 12 HOURS
     Route: 065
  459. MORPHINE SULFATE [Suspect]
     Active Substance: MORPHINE SULFATE
     Indication: Dyspnoea
     Dosage: 2 DF, DAILY
     Route: 065
  460. MORPHINE SULFATE [Suspect]
     Active Substance: MORPHINE SULFATE
     Dosage: 88 MILLIGRAM, DAILY
     Route: 065
  461. MORPHINE SULFATE [Suspect]
     Active Substance: MORPHINE SULFATE
     Dosage: UNK UNK, QD
     Route: 065
  462. MORPHINE SULFATE [Suspect]
     Active Substance: MORPHINE SULFATE
     Route: 030
  463. MORPHINE SULFATE [Suspect]
     Active Substance: MORPHINE SULFATE
     Route: 030
  464. MORPHINE SULFATE [Suspect]
     Active Substance: MORPHINE SULFATE
     Indication: Chest pain
     Route: 065
  465. MORPHINE SULFATE [Suspect]
     Active Substance: MORPHINE SULFATE
     Route: 065
  466. MORPHINE SULFATE [Suspect]
     Active Substance: MORPHINE SULFATE
     Route: 065
  467. MORPHINE SULFATE [Suspect]
     Active Substance: MORPHINE SULFATE
     Route: 065
  468. MORPHINE SULFATE [Suspect]
     Active Substance: MORPHINE SULFATE
     Route: 065
  469. MORPHINE SULFATE [Suspect]
     Active Substance: MORPHINE SULFATE
     Route: 065
  470. MORPHINE SULFATE [Suspect]
     Active Substance: MORPHINE SULFATE
     Route: 065
  471. MAGNESIUM ALUMINUM SILICATE [Suspect]
     Active Substance: MAGNESIUM ALUMINUM SILICATE
     Dosage: 1 DOSAGE FORM, DAILY
     Route: 065
  472. MAGNESIUM ALUMINUM SILICATE [Suspect]
     Active Substance: MAGNESIUM ALUMINUM SILICATE
     Dosage: 1 DF, Q12H
     Route: 065
  473. MAGNESIUM ALUMINUM SILICATE [Suspect]
     Active Substance: MAGNESIUM ALUMINUM SILICATE
     Dosage: 10 MG, QD
     Route: 065
  474. MAGNESIUM ALUMINUM SILICATE [Suspect]
     Active Substance: MAGNESIUM ALUMINUM SILICATE
     Dosage: 100 MG, QD
     Route: 065
  475. MAGNESIUM ALUMINUM SILICATE [Suspect]
     Active Substance: MAGNESIUM ALUMINUM SILICATE
     Dosage: 2 DF, 1/WEEK
     Route: 065
  476. MAGNESIUM ALUMINUM SILICATE [Suspect]
     Active Substance: MAGNESIUM ALUMINUM SILICATE
     Dosage: 1 DOSAGE FORM, BID
     Route: 065
  477. MAGNESIUM ALUMINUM SILICATE [Suspect]
     Active Substance: MAGNESIUM ALUMINUM SILICATE
     Dosage: 2 DF, DAILY
     Route: 065
  478. MAGNESIUM ALUMINUM SILICATE [Suspect]
     Active Substance: MAGNESIUM ALUMINUM SILICATE
     Dosage: 2 DF, DAILY
     Route: 065
  479. MAGNESIUM ALUMINUM SILICATE [Suspect]
     Active Substance: MAGNESIUM ALUMINUM SILICATE
     Dosage: 2 DF, 1 EVERY 2 DAYS
     Route: 065
  480. MAGNESIUM ALUMINUM SILICATE [Suspect]
     Active Substance: MAGNESIUM ALUMINUM SILICATE
     Dosage: 2 DF, DAILY
     Route: 065
  481. MAGNESIUM ALUMINUM SILICATE [Suspect]
     Active Substance: MAGNESIUM ALUMINUM SILICATE
     Dosage: 1 DOSAGE FORM, 2/WEEK
     Route: 065
  482. MAGNESIUM ALUMINUM SILICATE [Suspect]
     Active Substance: MAGNESIUM ALUMINUM SILICATE
     Route: 065
  483. MAGNESIUM ALUMINUM SILICATE [Suspect]
     Active Substance: MAGNESIUM ALUMINUM SILICATE
     Dosage: 2 DOSAGE FORM, BID
     Route: 065
  484. MAGNESIUM ALUMINUM SILICATE [Suspect]
     Active Substance: MAGNESIUM ALUMINUM SILICATE
     Dosage: 50 MG, DAILY
     Route: 065
  485. MAGNESIUM ALUMINUM SILICATE [Suspect]
     Active Substance: MAGNESIUM ALUMINUM SILICATE
     Dosage: 50 DOSAGE FORM, DAILY
     Route: 065
  486. MAGNESIUM ALUMINUM SILICATE [Suspect]
     Active Substance: MAGNESIUM ALUMINUM SILICATE
     Dosage: 620 MG, Q12H
     Route: 065
  487. MAGNESIUM ALUMINUM SILICATE [Suspect]
     Active Substance: MAGNESIUM ALUMINUM SILICATE
     Dosage: 75 MILLIGRAM, DAILY
     Route: 065
  488. MAGNESIUM ALUMINUM SILICATE [Suspect]
     Active Substance: MAGNESIUM ALUMINUM SILICATE
     Indication: Constipation
     Route: 065
  489. MAGNESIUM HYDROXIDE [Suspect]
     Active Substance: MAGNESIUM HYDROXIDE
     Dosage: UNK, DAILY
     Route: 065
  490. MAGNESIUM HYDROXIDE [Suspect]
     Active Substance: MAGNESIUM HYDROXIDE
     Dosage: 10 MILLIGRAM, DAILY
     Route: 065
  491. MAGNESIUM HYDROXIDE [Suspect]
     Active Substance: MAGNESIUM HYDROXIDE
     Route: 065
  492. MAGNESIUM HYDROXIDE [Suspect]
     Active Substance: MAGNESIUM HYDROXIDE
     Dosage: 622 MG, Q12H
     Route: 065
  493. MAGNESIUM HYDROXIDE [Suspect]
     Active Substance: MAGNESIUM HYDROXIDE
     Route: 065
  494. MAGNESIUM HYDROXIDE [Suspect]
     Active Substance: MAGNESIUM HYDROXIDE
     Route: 065
  495. MAGNESIUM HYDROXIDE [Suspect]
     Active Substance: MAGNESIUM HYDROXIDE
     Route: 065
  496. MAGNESIUM HYDROXIDE [Suspect]
     Active Substance: MAGNESIUM HYDROXIDE
     Dosage: 2 DF, DAILY
     Route: 065
  497. MAGNESIUM HYDROXIDE [Suspect]
     Active Substance: MAGNESIUM HYDROXIDE
     Dosage: 1 DF, BID
     Route: 065
  498. MAGNESIUM HYDROXIDE [Suspect]
     Active Substance: MAGNESIUM HYDROXIDE
     Route: 065
  499. MAGNESIUM HYDROXIDE [Suspect]
     Active Substance: MAGNESIUM HYDROXIDE
     Dosage: 2 DOSAGE FORM, BID
     Route: 065
  500. MAGNESIUM HYDROXIDE [Suspect]
     Active Substance: MAGNESIUM HYDROXIDE
     Dosage: 622 MG, QD
     Route: 065
  501. MAGNESIUM HYDROXIDE [Suspect]
     Active Substance: MAGNESIUM HYDROXIDE
     Indication: Constipation
     Dosage: 622 MG, Q12H
     Route: 065
  502. MAGNESIUM HYDROXIDE [Suspect]
     Active Substance: MAGNESIUM HYDROXIDE
     Dosage: UNK, BID
     Route: 065
  503. MAGNESIUM HYDROXIDE [Suspect]
     Active Substance: MAGNESIUM HYDROXIDE
     Route: 065
  504. NITROGLYCERIN [Suspect]
     Active Substance: NITROGLYCERIN
     Indication: Coronary artery disease
     Dosage: 1 DF, DAILY
     Route: 061
  505. NITROGLYCERIN [Suspect]
     Active Substance: NITROGLYCERIN
     Indication: Angina pectoris
     Dosage: 0.4 MG, 1 EVERY 1DAY
     Route: 061
  506. NITROGLYCERIN [Suspect]
     Active Substance: NITROGLYCERIN
     Route: 061
  507. NITROGLYCERIN [Suspect]
     Active Substance: NITROGLYCERIN
     Dosage: 0.6 MG, 1EVERY 1DAY
     Route: 061
  508. NITROGLYCERIN [Suspect]
     Active Substance: NITROGLYCERIN
     Indication: Chest pain
     Route: 061
  509. NITROGLYCERIN [Suspect]
     Active Substance: NITROGLYCERIN
     Indication: Hypertension
     Dosage: 1 DF, DAILY
     Route: 065
  510. OMEPRAZOLE [Suspect]
     Active Substance: OMEPRAZOLE
     Dosage: 20 MG, QD
     Route: 065
  511. OMEPRAZOLE [Suspect]
     Active Substance: OMEPRAZOLE
     Dosage: 20 MG, QD
     Route: 065
  512. OMEPRAZOLE [Suspect]
     Active Substance: OMEPRAZOLE
     Route: 065
  513. OMEPRAZOLE [Suspect]
     Active Substance: OMEPRAZOLE
     Route: 065
  514. OMEPRAZOLE [Suspect]
     Active Substance: OMEPRAZOLE
     Route: 065
  515. OMEPRAZOLE [Suspect]
     Active Substance: OMEPRAZOLE
     Indication: Product used for unknown indication
     Route: 065
  516. OMEPRAZOLE [Suspect]
     Active Substance: OMEPRAZOLE
     Route: 065
  517. OXCARBAZEPINE [Suspect]
     Active Substance: OXCARBAZEPINE
     Dosage: 10 MG, DAILY
     Route: 065
  518. OXCARBAZEPINE [Suspect]
     Active Substance: OXCARBAZEPINE
     Dosage: 20 MG, DAILY
     Route: 065
  519. OXCARBAZEPINE [Suspect]
     Active Substance: OXCARBAZEPINE
     Indication: Product used for unknown indication
     Dosage: 4 MG, DAILY
     Route: 065
  520. OXCARBAZEPINE [Suspect]
     Active Substance: OXCARBAZEPINE
     Dosage: 4 MG, DAILY
     Route: 065
  521. OXCARBAZEPINE [Suspect]
     Active Substance: OXCARBAZEPINE
     Dosage: 40 UNK, 1 EVERY 1DAY
     Route: 061
  522. OXCARBAZEPINE [Suspect]
     Active Substance: OXCARBAZEPINE
     Dosage: 40 MG, DAILY
     Route: 061
  523. OXCARBAZEPINE [Suspect]
     Active Substance: OXCARBAZEPINE
     Dosage: 40 MG, DAILY
     Route: 061
  524. OXCARBAZEPINE [Suspect]
     Active Substance: OXCARBAZEPINE
     Route: 065
  525. OXCARBAZEPINE [Suspect]
     Active Substance: OXCARBAZEPINE
     Route: 065
  526. MORPHINE SULFATE [Suspect]
     Active Substance: MORPHINE SULFATE
     Indication: Fibromyalgia
     Dosage: 10 MG, DAILY
     Route: 065
  527. MORPHINE SULFATE [Suspect]
     Active Substance: MORPHINE SULFATE
     Indication: Pain
     Dosage: 100 MG, DAILY
     Route: 065
  528. OXAZEPAM [Suspect]
     Active Substance: OXAZEPAM
     Indication: Cerebrovascular accident
     Dosage: 15 MG, DAILY
     Route: 048
  529. OXAZEPAM [Suspect]
     Active Substance: OXAZEPAM
     Indication: Product used for unknown indication
     Dosage: 15 MG, DAILY
     Route: 048
  530. OXAZEPAM [Suspect]
     Active Substance: OXAZEPAM
     Dosage: 15 MG, DAILY
     Route: 048
  531. OXAZEPAM [Suspect]
     Active Substance: OXAZEPAM
     Dosage: 15 MG, DAILY
     Route: 048
  532. OXAZEPAM [Suspect]
     Active Substance: OXAZEPAM
     Dosage: 15 MG, DAILY
     Route: 048
  533. OXAZEPAM [Suspect]
     Active Substance: OXAZEPAM
     Dosage: 15 MG, DAILY
     Route: 048
  534. OXAZEPAM [Suspect]
     Active Substance: OXAZEPAM
     Indication: Coronary artery disease
     Dosage: 20 MG, DAILY
     Route: 048
  535. OXAZEPAM [Suspect]
     Active Substance: OXAZEPAM
     Indication: Angina pectoris
     Dosage: 40 MG, DAILY
     Route: 048
  536. OXAZEPAM [Suspect]
     Active Substance: OXAZEPAM
     Dosage: 40 MG, DAILY
     Route: 048
  537. OXAZEPAM [Suspect]
     Active Substance: OXAZEPAM
     Indication: Hypertension
     Dosage: 50 MILLIGRAM, DAILY
     Route: 065
  538. OXAZEPAM [Suspect]
     Active Substance: OXAZEPAM
     Indication: Insomnia
     Dosage: 75 MG, DAILY
     Route: 065
  539. OXAZEPAM [Suspect]
     Active Substance: OXAZEPAM
     Route: 065
  540. ACETAMINOPHEN [Suspect]
     Active Substance: ACETAMINOPHEN
     Route: 065
  541. ACETAMINOPHEN [Suspect]
     Active Substance: ACETAMINOPHEN
     Dosage: 1 MG, QD
     Route: 065
  542. ACETAMINOPHEN [Suspect]
     Active Substance: ACETAMINOPHEN
     Dosage: 1.87 MG, QID
     Route: 065
  543. ACETAMINOPHEN [Suspect]
     Active Substance: ACETAMINOPHEN
     Route: 065
  544. ACETAMINOPHEN [Suspect]
     Active Substance: ACETAMINOPHEN
     Route: 065
  545. ACETAMINOPHEN [Suspect]
     Active Substance: ACETAMINOPHEN
     Route: 065
  546. ACETAMINOPHEN [Suspect]
     Active Substance: ACETAMINOPHEN
     Route: 065
  547. ACETAMINOPHEN [Suspect]
     Active Substance: ACETAMINOPHEN
     Dosage: 100 UG, Q12H
     Route: 065
  548. ACETAMINOPHEN [Suspect]
     Active Substance: ACETAMINOPHEN
     Route: 065
  549. ACETAMINOPHEN [Suspect]
     Active Substance: ACETAMINOPHEN
     Dosage: 15
     Route: 065
  550. ACETAMINOPHEN [Suspect]
     Active Substance: ACETAMINOPHEN
     Dosage: 2 MG, QD
     Route: 065
  551. ACETAMINOPHEN [Suspect]
     Active Substance: ACETAMINOPHEN
     Route: 065
  552. ACETAMINOPHEN [Suspect]
     Active Substance: ACETAMINOPHEN
     Dosage: 200 MG, QD
     Route: 065
  553. ACETAMINOPHEN [Suspect]
     Active Substance: ACETAMINOPHEN
     Route: 065
  554. ACETAMINOPHEN [Suspect]
     Active Substance: ACETAMINOPHEN
     Dosage: 200 UG, Q12H
     Route: 065
  555. ACETAMINOPHEN [Suspect]
     Active Substance: ACETAMINOPHEN
     Dosage: 360 UG, QD
     Route: 065
  556. ACETAMINOPHEN [Suspect]
     Active Substance: ACETAMINOPHEN
     Dosage: 5 MG, QD
     Route: 065
  557. ACETAMINOPHEN [Suspect]
     Active Substance: ACETAMINOPHEN
     Dosage: 5 MG, Q12H
     Route: 065
  558. ACETAMINOPHEN [Suspect]
     Active Substance: ACETAMINOPHEN
     Indication: Product used for unknown indication
     Dosage: 5 MG, Q8H
     Route: 065
  559. ACETAMINOPHEN [Suspect]
     Active Substance: ACETAMINOPHEN
     Dosage: 5 MG, Q8H
     Route: 065
  560. ACETAMINOPHEN [Suspect]
     Active Substance: ACETAMINOPHEN
     Dosage: 5 MG, BID(10 MG QD)
     Route: 065
  561. ACETAMINOPHEN [Suspect]
     Active Substance: ACETAMINOPHEN
     Dosage: 5 MG, TID(15 MG QD)
     Route: 065
  562. ACETAMINOPHEN [Suspect]
     Active Substance: ACETAMINOPHEN
     Route: 065
  563. ACETAMINOPHEN [Suspect]
     Active Substance: ACETAMINOPHEN
     Dosage: 5 UG, Q12H
     Route: 065
  564. PERPHENAZINE [Suspect]
     Active Substance: PERPHENAZINE
     Indication: Product used for unknown indication
     Dosage: 650 MG, DAILY
     Route: 065
  565. PERSANTINE [Suspect]
     Active Substance: DIPYRIDAMOLE
     Dosage: 1 DF, 1 EVERY  1DAY
     Route: 065
  566. PERSANTINE [Suspect]
     Active Substance: DIPYRIDAMOLE
     Dosage: 1 DF, Q12H
     Route: 065
  567. PERSANTINE [Suspect]
     Active Substance: DIPYRIDAMOLE
     Route: 065
  568. PERSANTINE [Suspect]
     Active Substance: DIPYRIDAMOLE
     Route: 065
  569. PERSANTINE [Suspect]
     Active Substance: DIPYRIDAMOLE
     Dosage: 1 DOSAGE FORM, BID
     Route: 065
  570. PERSANTINE [Suspect]
     Active Substance: DIPYRIDAMOLE
     Dosage: 2 DF, DAILY
     Route: 065
  571. PERSANTINE [Suspect]
     Active Substance: DIPYRIDAMOLE
     Indication: Cerebrovascular accident
     Dosage: 20 MILLIGRAM, DAILY
     Route: 065
  572. PERSANTINE [Suspect]
     Active Substance: DIPYRIDAMOLE
     Route: 065
  573. PHENOLPHTHALEIN [Suspect]
     Active Substance: PHENOLPHTHALEIN
     Dosage: 0.088 MG, DAILY
     Route: 048
  574. PHENOLPHTHALEIN [Suspect]
     Active Substance: PHENOLPHTHALEIN
     Dosage: 0.09 MG, QD
     Route: 048
  575. PHENOLPHTHALEIN [Suspect]
     Active Substance: PHENOLPHTHALEIN
     Dosage: 0.8 MG, DAILY
     Route: 065
  576. PHENOLPHTHALEIN [Suspect]
     Active Substance: PHENOLPHTHALEIN
     Dosage: 0.88 MG DAILY
     Route: 048
  577. PHENOLPHTHALEIN [Suspect]
     Active Substance: PHENOLPHTHALEIN
     Dosage: 88 MILLIGRAM, DAILY
     Route: 065
  578. PHENOLPHTHALEIN [Suspect]
     Active Substance: PHENOLPHTHALEIN
     Dosage: 88 NANOGRAM, DAILY
     Route: 065
  579. PHENOLPHTHALEIN [Suspect]
     Active Substance: PHENOLPHTHALEIN
     Dosage: UNK, DAILY
     Route: 065
  580. PHENOLPHTHALEIN [Suspect]
     Active Substance: PHENOLPHTHALEIN
     Indication: Product used for unknown indication
     Route: 065
  581. PHENOLPHTHALEIN [Suspect]
     Active Substance: PHENOLPHTHALEIN
     Route: 065
  582. DOCUSATE SODIUM\PHENOLPHTHALEIN [Suspect]
     Active Substance: DOCUSATE SODIUM\PHENOLPHTHALEIN
     Indication: Product used for unknown indication
     Route: 065
  583. PHENYLEPHRINE HYDROCHLORIDE [Suspect]
     Active Substance: PHENYLEPHRINE HYDROCHLORIDE
     Indication: Product used for unknown indication
     Route: 065
  584. PICOLAX (ANHYDROUS CITRIC ACID\MAGNESIUM OXIDE\SODIUM PICOSULFATE) [Suspect]
     Active Substance: ANHYDROUS CITRIC ACID\MAGNESIUM OXIDE\SODIUM PICOSULFATE
     Indication: Product used for unknown indication
     Route: 065
  585. HERBALS\PLANTAGO OVATA LEAF [Suspect]
     Active Substance: HERBALS\PLANTAGO OVATA LEAF
     Indication: Constipation
     Route: 065
  586. POLYSORBATE 20 [Suspect]
     Active Substance: POLYSORBATE 20
     Indication: Insomnia
     Route: 065
  587. POLYSORBATE 40 [Suspect]
     Active Substance: POLYSORBATE 40
     Indication: Product used for unknown indication
     Route: 065
  588. POLYSORBATE 40 [Suspect]
     Active Substance: POLYSORBATE 40
     Route: 065
  589. POLYSORBATE 80 [Suspect]
     Active Substance: POLYSORBATE 80
     Indication: Product used for unknown indication
     Route: 065
  590. POLYSORBATE 85 [Suspect]
     Active Substance: POLYSORBATE 85
     Dosage: 1 DF, DAILY
     Route: 065
  591. POLYSORBATE 85 [Suspect]
     Active Substance: POLYSORBATE 85
     Dosage: 2 DF, QD
     Route: 048
  592. POLYSORBATE 85 [Suspect]
     Active Substance: POLYSORBATE 85
     Route: 065
  593. POLYSORBATE 85 [Suspect]
     Active Substance: POLYSORBATE 85
     Indication: Insomnia
     Route: 065
  594. POLYSORBATE 85 [Suspect]
     Active Substance: POLYSORBATE 85
     Dosage: 650 MILLIGRAM, DAILY
     Route: 065
  595. POLYSORBATE 85 [Suspect]
     Active Substance: POLYSORBATE 85
     Dosage: UNK, DAILY
     Route: 065
  596. POLYSORBATE 85 [Suspect]
     Active Substance: POLYSORBATE 85
     Route: 065
  597. POTASSIUM SORBATE [Suspect]
     Active Substance: POTASSIUM SORBATE
     Indication: Product used for unknown indication
     Route: 065
  598. POTASSIUM SORBATE [Suspect]
     Active Substance: POTASSIUM SORBATE
     Route: 065
  599. POTASSIUM SORBATE [Suspect]
     Active Substance: POTASSIUM SORBATE
     Route: 065
  600. QUINAPRIL [Suspect]
     Active Substance: QUINAPRIL
     Dosage: 20 MG, DAILY
     Route: 048
  601. QUINAPRIL [Suspect]
     Active Substance: QUINAPRIL
     Dosage: 20 MG, QD
     Route: 048
  602. QUINAPRIL [Suspect]
     Active Substance: QUINAPRIL
     Indication: Product used for unknown indication
     Dosage: 20 MG, Q12H
     Route: 048
  603. QUINAPRIL [Suspect]
     Active Substance: QUINAPRIL
     Route: 048
  604. QUINAPRIL [Suspect]
     Active Substance: QUINAPRIL
     Route: 048
  605. QUINAPRIL [Suspect]
     Active Substance: QUINAPRIL
     Route: 048
  606. QUINAPRIL [Suspect]
     Active Substance: QUINAPRIL
     Route: 065
  607. QUINAPRIL [Suspect]
     Active Substance: QUINAPRIL
     Route: 065
  608. QUINAPRIL [Suspect]
     Active Substance: QUINAPRIL
     Dosage: 1 DF, DAILY
     Route: 065
  609. QUINAPRIL [Suspect]
     Active Substance: QUINAPRIL
     Indication: Product used for unknown indication
     Dosage: 10 MG, DAILY
     Route: 065
  610. QUINAPRIL [Suspect]
     Active Substance: QUINAPRIL
     Dosage: 10 MG, DAILY
     Route: 065
  611. QUINAPRIL [Suspect]
     Active Substance: QUINAPRIL
     Route: 065
  612. QUINAPRIL [Suspect]
     Active Substance: QUINAPRIL
     Dosage: 100 MILLIGRAM, DAILY
     Route: 065
  613. QUINAPRIL [Suspect]
     Active Substance: QUINAPRIL
     Dosage: 2 DF, DAILY
     Route: 065
  614. QUINAPRIL [Suspect]
     Active Substance: QUINAPRIL
     Dosage: UNK, DAILY
     Route: 065
  615. QUINAPRIL [Suspect]
     Active Substance: QUINAPRIL
     Route: 065
  616. QUINAPRIL [Suspect]
     Active Substance: QUINAPRIL
     Route: 065
  617. QUINAPRIL [Suspect]
     Active Substance: QUINAPRIL
     Route: 065
  618. QUINAPRIL [Suspect]
     Active Substance: QUINAPRIL
     Route: 065
  619. QUINAPRIL [Suspect]
     Active Substance: QUINAPRIL
     Route: 065
  620. QUINAPRIL [Suspect]
     Active Substance: QUINAPRIL
     Route: 065
  621. QUININE [Suspect]
     Active Substance: QUININE
     Indication: Product used for unknown indication
     Route: 065
  622. ROSUVASTATIN [Suspect]
     Active Substance: ROSUVASTATIN
     Dosage: 1 DF, BID
     Route: 065
  623. ROSUVASTATIN [Suspect]
     Active Substance: ROSUVASTATIN
     Indication: Product used for unknown indication
     Route: 065
  624. ROSUVASTATIN [Suspect]
     Active Substance: ROSUVASTATIN
     Route: 065
  625. ROSUVASTATIN CALCIUM [Suspect]
     Active Substance: ROSUVASTATIN CALCIUM
     Indication: Cerebrovascular accident
     Dosage: 100 MG, DAILY
     Route: 065
  626. ROSUVASTATIN CALCIUM [Suspect]
     Active Substance: ROSUVASTATIN CALCIUM
     Dosage: 50 MG, BID
     Route: 065
  627. ROSUVASTATIN CALCIUM [Suspect]
     Active Substance: ROSUVASTATIN CALCIUM
     Dosage: 100 MILLIGRAM, EVERY 1 HOURS
     Route: 065
  628. ROSUVASTATIN CALCIUM [Suspect]
     Active Substance: ROSUVASTATIN CALCIUM
     Dosage: 100 MG, Q12H
     Route: 065
  629. ROSUVASTATIN CALCIUM [Suspect]
     Active Substance: ROSUVASTATIN CALCIUM
     Dosage: 100 MILLIGRAM, EVERY 2 DAYS
     Route: 065
  630. ROSUVASTATIN CALCIUM [Suspect]
     Active Substance: ROSUVASTATIN CALCIUM
     Dosage: 100 MILLIGRAM, EVERY 5 DAYS
     Route: 065
  631. ROSUVASTATIN CALCIUM [Suspect]
     Active Substance: ROSUVASTATIN CALCIUM
     Route: 065
  632. ROSUVASTATIN CALCIUM [Suspect]
     Active Substance: ROSUVASTATIN CALCIUM
     Route: 065
  633. ROSUVASTATIN CALCIUM [Suspect]
     Active Substance: ROSUVASTATIN CALCIUM
     Dosage: 200 MG, 5/DAY
     Route: 065
  634. ROSUVASTATIN CALCIUM [Suspect]
     Active Substance: ROSUVASTATIN CALCIUM
     Dosage: 200 MG, 5X/WEEK
     Route: 065
  635. ROSUVASTATIN CALCIUM [Suspect]
     Active Substance: ROSUVASTATIN CALCIUM
     Dosage: 200 MG,2 EVERY 1 WEEK
     Route: 065
  636. ROSUVASTATIN CALCIUM [Suspect]
     Active Substance: ROSUVASTATIN CALCIUM
     Dosage: 100 MG, BID
     Route: 065
  637. ROSUVASTATIN CALCIUM [Suspect]
     Active Substance: ROSUVASTATIN CALCIUM
     Dosage: 200 MG, DAILY
     Route: 065
  638. ROSUVASTATIN CALCIUM [Suspect]
     Active Substance: ROSUVASTATIN CALCIUM
     Dosage: 200 MG, Q12H
     Route: 065
  639. ROSUVASTATIN CALCIUM [Suspect]
     Active Substance: ROSUVASTATIN CALCIUM
     Dosage: 200 MG, Q12H
     Route: 065
  640. ROSUVASTATIN CALCIUM [Suspect]
     Active Substance: ROSUVASTATIN CALCIUM
     Dosage: 200 MG, Q12H
     Route: 065
  641. ROSUVASTATIN CALCIUM [Suspect]
     Active Substance: ROSUVASTATIN CALCIUM
     Indication: Insomnia
     Dosage: 200 MILLIGRAM, EVERY 5 DAY
     Route: 065
  642. ROSUVASTATIN CALCIUM [Suspect]
     Active Substance: ROSUVASTATIN CALCIUM
     Indication: Chest pain
     Route: 065
  643. ROSUVASTATIN CALCIUM [Suspect]
     Active Substance: ROSUVASTATIN CALCIUM
     Indication: Chronic obstructive pulmonary disease
     Route: 065
  644. ROSUVASTATIN CALCIUM [Suspect]
     Active Substance: ROSUVASTATIN CALCIUM
     Route: 065
  645. ROSUVASTATIN CALCIUM [Suspect]
     Active Substance: ROSUVASTATIN CALCIUM
     Route: 065
  646. ROSUVASTATIN CALCIUM [Suspect]
     Active Substance: ROSUVASTATIN CALCIUM
     Route: 065
  647. ROSUVASTATIN CALCIUM [Suspect]
     Active Substance: ROSUVASTATIN CALCIUM
     Dosage: 400 MG, 1/WEEK
     Route: 065
  648. ROSUVASTATIN CALCIUM [Suspect]
     Active Substance: ROSUVASTATIN CALCIUM
     Dosage: 200 MG, BID
     Route: 065
  649. ROSUVASTATIN CALCIUM [Suspect]
     Active Substance: ROSUVASTATIN CALCIUM
     Indication: Angina pectoris
     Dosage: 400 MG, DAILY
     Route: 065
  650. ROSUVASTATIN CALCIUM [Suspect]
     Active Substance: ROSUVASTATIN CALCIUM
     Indication: Hypertension
     Dosage: 400 MG, DAILY
     Route: 065
  651. ROSUVASTATIN CALCIUM [Suspect]
     Active Substance: ROSUVASTATIN CALCIUM
     Dosage: 50 MILLIGRAM, DAILY (1 EVERY 1 DAYS)
     Route: 065
  652. ROSUVASTATIN CALCIUM [Suspect]
     Active Substance: ROSUVASTATIN CALCIUM
     Dosage: 50 MG, 2 EVERY 2 DAYS
     Route: 065
  653. ROSUVASTATIN CALCIUM [Suspect]
     Active Substance: ROSUVASTATIN CALCIUM
     Indication: Coronary artery disease
     Dosage: 500 MILLIGRAM, DAILY
     Route: 065
  654. ROSUVASTATIN CALCIUM [Suspect]
     Active Substance: ROSUVASTATIN CALCIUM
     Route: 065
  655. ROSUVASTATIN CALCIUM [Suspect]
     Active Substance: ROSUVASTATIN CALCIUM
     Dosage: 400 MILLIGRAM, BID(1 EVERY 12HOURS)
     Route: 065
  656. ROSUVASTATIN CALCIUM [Suspect]
     Active Substance: ROSUVASTATIN CALCIUM
     Route: 065
  657. ROSUVASTATIN CALCIUM [Suspect]
     Active Substance: ROSUVASTATIN CALCIUM
     Route: 065
  658. ALBUTEROL [Suspect]
     Active Substance: ALBUTEROL
     Dosage: 100 MG, DAILY
     Route: 065
  659. ALBUTEROL [Suspect]
     Active Substance: ALBUTEROL
     Dosage: 100 MILLIGRAM,1 EVERY 6HOURS
     Route: 065
  660. ALBUTEROL [Suspect]
     Active Substance: ALBUTEROL
     Route: 065
  661. ALBUTEROL [Suspect]
     Active Substance: ALBUTEROL
     Dosage: 100 MCG, DAILY (100 MCG PER INHALATION DAILY)
     Route: 055
  662. ALBUTEROL [Suspect]
     Active Substance: ALBUTEROL
     Route: 065
  663. ALBUTEROL [Suspect]
     Active Substance: ALBUTEROL
     Dosage: 200 MG, Q8H
     Route: 065
  664. ALBUTEROL [Suspect]
     Active Substance: ALBUTEROL
     Dosage: 200 MILLIGRAM,4 EVERY 1 DAY
     Route: 065
  665. ALBUTEROL [Suspect]
     Active Substance: ALBUTEROL
     Dosage: 200 MCG, Q6H
     Route: 065
  666. ALBUTEROL [Suspect]
     Active Substance: ALBUTEROL
     Dosage: 400 MG, DAILY
     Route: 065
  667. ALBUTEROL [Suspect]
     Active Substance: ALBUTEROL
     Dosage: 400 MG, Q6H
     Route: 065
  668. ALBUTEROL [Suspect]
     Active Substance: ALBUTEROL
     Dosage: 200 MCG, BID
     Route: 055
  669. ALBUTEROL [Suspect]
     Active Substance: ALBUTEROL
     Indication: Product used for unknown indication
     Dosage: TABLET 400 MICROGRAM,1 EVERY 6HOURS
     Route: 065
  670. ALBUTEROL [Suspect]
     Active Substance: ALBUTEROL
     Dosage: 800 MILLIGRAM, DAILY
     Route: 065
  671. ALBUTEROL [Suspect]
     Active Substance: ALBUTEROL
     Route: 065
  672. ALBUTEROL [Suspect]
     Active Substance: ALBUTEROL
     Dosage: UNK, QID
     Route: 065
  673. ALBUTEROL SULFATE [Suspect]
     Active Substance: ALBUTEROL SULFATE
     Dosage: 100 MCG, DAILY (100 MCG PER INHALATION DAILY)
     Route: 055
  674. ALBUTEROL SULFATE [Suspect]
     Active Substance: ALBUTEROL SULFATE
     Indication: Chest pain
     Dosage: 100 MG, DAILY
     Route: 065
  675. ALBUTEROL SULFATE [Suspect]
     Active Substance: ALBUTEROL SULFATE
     Dosage: 100 MG, DAILY
     Route: 065
  676. ALBUTEROL SULFATE [Suspect]
     Active Substance: ALBUTEROL SULFATE
     Indication: Hypertension
     Dosage: 200 MG, Q6H
     Route: 065
  677. ALBUTEROL SULFATE [Suspect]
     Active Substance: ALBUTEROL SULFATE
     Indication: Chronic obstructive pulmonary disease
     Dosage: 200 MCG, Q6H
     Route: 065
  678. ALBUTEROL SULFATE [Suspect]
     Active Substance: ALBUTEROL SULFATE
     Indication: Coronary artery disease
     Dosage: 400 MG, Q6H
     Route: 065
  679. ALBUTEROL SULFATE [Suspect]
     Active Substance: ALBUTEROL SULFATE
     Indication: Angina pectoris
     Route: 065
  680. SALICYLAMIDE [Suspect]
     Active Substance: SALICYLAMIDE
     Indication: Pain
     Route: 065
  681. SENNOSIDES A AND B [Suspect]
     Active Substance: SENNOSIDES A AND B
     Indication: Pain
     Route: 065
  682. SENNOSIDES A AND B [Suspect]
     Active Substance: SENNOSIDES A AND B
     Route: 065
  683. SODIUM PICOSULFATE [Suspect]
     Active Substance: SODIUM PICOSULFATE
     Indication: Product used for unknown indication
     Route: 065
  684. SPIRIVA [Suspect]
     Active Substance: TIOTROPIUM BROMIDE MONOHYDRATE
     Indication: Product used for unknown indication
     Dosage: 1 DF, DAILY
     Route: 065
  685. SPIRIVA [Suspect]
     Active Substance: TIOTROPIUM BROMIDE MONOHYDRATE
     Indication: Asthma
     Dosage: 18 MG, DAILY
     Route: 065
  686. SPIRIVA [Suspect]
     Active Substance: TIOTROPIUM BROMIDE MONOHYDRATE
     Dosage: 18 MG, QD
     Route: 065
  687. SPIRIVA [Suspect]
     Active Substance: TIOTROPIUM BROMIDE MONOHYDRATE
     Indication: Chronic obstructive pulmonary disease
     Dosage: 18 UG, QD
     Route: 065
  688. SPIRIVA [Suspect]
     Active Substance: TIOTROPIUM BROMIDE MONOHYDRATE
     Dosage: 18 UG, QD
     Route: 065
  689. SPIRIVA [Suspect]
     Active Substance: TIOTROPIUM BROMIDE MONOHYDRATE
     Dosage: 18 UG, QD
     Route: 065
  690. SPIRIVA [Suspect]
     Active Substance: TIOTROPIUM BROMIDE MONOHYDRATE
     Dosage: 18 UG, QD
     Route: 065
  691. SPIRIVA [Suspect]
     Active Substance: TIOTROPIUM BROMIDE MONOHYDRATE
     Dosage: 18 UG, QD
     Route: 065
  692. SPIRIVA [Suspect]
     Active Substance: TIOTROPIUM BROMIDE MONOHYDRATE
     Dosage: 18000 UG/H UNK
     Route: 065
  693. SPIRIVA [Suspect]
     Active Substance: TIOTROPIUM BROMIDE MONOHYDRATE
     Indication: Constipation
     Route: 065
  694. TIOTROPIUM BROMIDE [Suspect]
     Active Substance: TIOTROPIUM BROMIDE
     Dosage: 18 MG, DAILY
     Route: 065
  695. TIOTROPIUM BROMIDE [Suspect]
     Active Substance: TIOTROPIUM BROMIDE
     Indication: Chronic obstructive pulmonary disease
     Route: 065
  696. TIOTROPIUM BROMIDE [Suspect]
     Active Substance: TIOTROPIUM BROMIDE
     Route: 065
  697. TIOTROPIUM BROMIDE [Suspect]
     Active Substance: TIOTROPIUM BROMIDE
     Dosage: 18 MCG, DAILY
     Route: 065
  698. TIOTROPIUM BROMIDE [Suspect]
     Active Substance: TIOTROPIUM BROMIDE
     Dosage: 5 MG, DAILY
     Route: 065
  699. TIOTROPIUM BROMIDE [Suspect]
     Active Substance: TIOTROPIUM BROMIDE
     Indication: Constipation
     Route: 048
  700. TIOTROPIUM BROMIDE [Suspect]
     Active Substance: TIOTROPIUM BROMIDE
     Route: 065
  701. TIOTROPIUM BROMIDE [Suspect]
     Active Substance: TIOTROPIUM BROMIDE
     Route: 065
  702. TIOTROPIUM BROMIDE MONOHYDRATE [Suspect]
     Active Substance: TIOTROPIUM BROMIDE MONOHYDRATE
     Route: 065
  703. TIOTROPIUM BROMIDE MONOHYDRATE [Suspect]
     Active Substance: TIOTROPIUM BROMIDE MONOHYDRATE
     Dosage: 0.4 DOSAGE FORM, DAILY
     Route: 061
  704. TIOTROPIUM BROMIDE MONOHYDRATE [Suspect]
     Active Substance: TIOTROPIUM BROMIDE MONOHYDRATE
     Dosage: 0.6 MG, DAILY
     Route: 061
  705. TIOTROPIUM BROMIDE MONOHYDRATE [Suspect]
     Active Substance: TIOTROPIUM BROMIDE MONOHYDRATE
     Dosage: 0.6 MG, Q1H
     Route: 061
  706. TIOTROPIUM BROMIDE MONOHYDRATE [Suspect]
     Active Substance: TIOTROPIUM BROMIDE MONOHYDRATE
     Route: 065
  707. TIOTROPIUM BROMIDE MONOHYDRATE [Suspect]
     Active Substance: TIOTROPIUM BROMIDE MONOHYDRATE
     Indication: Product used for unknown indication
     Dosage: 1 DOSAGE FORM, DAILY
     Route: 061
  708. TIOTROPIUM BROMIDE MONOHYDRATE [Suspect]
     Active Substance: TIOTROPIUM BROMIDE MONOHYDRATE
     Route: 065
  709. TIOTROPIUM BROMIDE MONOHYDRATE [Suspect]
     Active Substance: TIOTROPIUM BROMIDE MONOHYDRATE
     Dosage: 6 MG, QD
     Route: 061
  710. TIOTROPIUM BROMIDE MONOHYDRATE [Suspect]
     Active Substance: TIOTROPIUM BROMIDE MONOHYDRATE
     Dosage: UNK, DAILY
     Route: 065
  711. TIOTROPIUM BROMIDE MONOHYDRATE [Suspect]
     Active Substance: TIOTROPIUM BROMIDE MONOHYDRATE
     Route: 065
  712. TIOTROPIUM BROMIDE MONOHYDRATE [Suspect]
     Active Substance: TIOTROPIUM BROMIDE MONOHYDRATE
     Route: 065
  713. AMITRIPTYLINE HYDROCHLORIDE\PERPHENAZINE [Suspect]
     Active Substance: AMITRIPTYLINE HYDROCHLORIDE\PERPHENAZINE
     Indication: Product used for unknown indication
     Route: 065
  714. CRANBERRY [Suspect]
     Active Substance: CRANBERRY
     Indication: Product used for unknown indication
     Dosage: UNK, QD
     Route: 065
  715. CRANBERRY [Suspect]
     Active Substance: CRANBERRY
     Dosage: 1 DOSAGE FORM, DAILY
     Route: 065
  716. CRANBERRY [Suspect]
     Active Substance: CRANBERRY
     Indication: Chronic obstructive pulmonary disease
     Dosage: 15 MILLIGRAM, DAILY
     Route: 042
  717. CRANBERRY [Suspect]
     Active Substance: CRANBERRY
     Dosage: 300 MILLIGRAM, DAILY
     Route: 065
  718. CRANBERRY [Suspect]
     Active Substance: CRANBERRY
     Dosage: 36 MILLIGRAM, DAILY
     Route: 042
  719. CRANBERRY [Suspect]
     Active Substance: CRANBERRY
     Indication: Bladder disorder
     Dosage: 360 MILLIGRAM, DAILY
     Route: 042
  720. CRANBERRY [Suspect]
     Active Substance: CRANBERRY
     Dosage: 40 MILLIGRAM, DAILY
     Route: 065
  721. CRANBERRY [Suspect]
     Active Substance: CRANBERRY
     Dosage: 500 MILLIGRAM, DAILY
     Route: 065
  722. CRANBERRY [Suspect]
     Active Substance: CRANBERRY
     Dosage: 500 MG, BID
     Route: 065
  723. CRANBERRY [Suspect]
     Active Substance: CRANBERRY
     Route: 065
  724. CRANBERRY [Suspect]
     Active Substance: CRANBERRY
     Route: 065
  725. CRANBERRY [Suspect]
     Active Substance: CRANBERRY
     Route: 065
  726. CRANBERRY [Suspect]
     Active Substance: CRANBERRY
     Indication: Product used for unknown indication
     Route: 065
  727. ZINC [Suspect]
     Active Substance: ZINC
     Indication: Product used for unknown indication
     Dosage: 100 MG, BID
     Route: 065
  728. ZINC [Suspect]
     Active Substance: ZINC
     Route: 065
  729. ZINC [Suspect]
     Active Substance: ZINC
     Dosage: 200 MG, Q12H
     Route: 065
  730. ZINC [Suspect]
     Active Substance: ZINC
     Dosage: 200 MG, BID(400 MG,QD)
     Route: 065
  731. ZINC [Suspect]
     Active Substance: ZINC
     Route: 065
  732. ZINC [Suspect]
     Active Substance: ZINC
     Route: 065
  733. ZINC [Suspect]
     Active Substance: ZINC
     Dosage: 400 MG, QD
     Route: 065
  734. ZINC [Suspect]
     Active Substance: ZINC
     Dosage: 2 UNK, QD
     Route: 065
  735. ZINC [Suspect]
     Active Substance: ZINC
     Route: 065
  736. ATROPINE [Suspect]
     Active Substance: ATROPINE
  737. NITROGLYCERIN [Suspect]
     Active Substance: NITROGLYCERIN
  738. PAPAVERINE [Suspect]
     Active Substance: PAPAVERINE
  739. PHENOBARBITAL [Suspect]
     Active Substance: PHENOBARBITAL

REACTIONS (6)
  - Cognitive disorder [Recovered/Resolved]
  - Mobility decreased [Recovered/Resolved]
  - Fall [Recovered/Resolved]
  - Creatinine renal clearance decreased [Recovered/Resolved]
  - Bladder disorder [Recovered/Resolved]
  - Dementia [Recovered/Resolved]
